FAERS Safety Report 20556900 (Version 22)
Quarter: 2023Q1

REPORT INFORMATION
  Report Type: Other
  Country: GB (occurrence: GB)
  Receive Date: 20220307
  Receipt Date: 20230125
  Transmission Date: 20230417
  Serious: Yes (Hospitalization, Other)
  Sender: FDA-Public Use
  Company Number: GB-CELLTRION INC.-2020GB035202

PATIENT

DRUGS (434)
  1. TRASTUZUMAB [Suspect]
     Active Substance: TRASTUZUMAB
     Indication: Breast cancer
     Dosage: 500 MG  3/WEEKS
     Route: 041
     Dates: start: 20171227
  2. TRASTUZUMAB [Suspect]
     Active Substance: TRASTUZUMAB
     Indication: Breast cancer metastatic
     Dosage: 600 MG, TIW/EVERY 3 WEEKS (DOSE FORM: 230)
     Route: 041
     Dates: start: 20150420
  3. TRASTUZUMAB [Suspect]
     Active Substance: TRASTUZUMAB
     Indication: Breast cancer
     Dosage: 600 MG, EVERY 3 WEEKS
     Route: 041
     Dates: start: 20150420
  4. TRASTUZUMAB [Suspect]
     Active Substance: TRASTUZUMAB
     Indication: Breast cancer metastatic
     Dosage: UNK
  5. TRASTUZUMAB [Suspect]
     Active Substance: TRASTUZUMAB
     Indication: HER2 positive breast cancer
     Dosage: 840 MILLIGRAM, Q3WK (DOSE FORM: 293) CUMULATIVE DOSE TO FIRST REACTION: 52081.668 MG
     Route: 042
     Dates: start: 20150420
  6. TRASTUZUMAB [Suspect]
     Active Substance: TRASTUZUMAB
     Dosage: (DOSE FORM: 230)
  7. TRASTUZUMAB [Suspect]
     Active Substance: TRASTUZUMAB
     Dosage: 600 MG, EVERY 3 WEEKS (DOSE FORM: 230) CUMULATIVE DOSE TO FIRST REACTION: 37201.19 MG
     Route: 042
     Dates: start: 20150420
  8. TRASTUZUMAB [Suspect]
     Active Substance: TRASTUZUMAB
     Dosage: 600 MG, Q3WK/EVERY 3 WEEKS (DOSE FORM: 293)
     Route: 042
  9. TRASTUZUMAB [Suspect]
     Active Substance: TRASTUZUMAB
     Dosage: 500 MG, Q3WK/EVERY 3 WEEKS (DOSE FORM: 293)
     Route: 042
     Dates: start: 20171227
  10. TRASTUZUMAB [Suspect]
     Active Substance: TRASTUZUMAB
     Dosage: 500 MG, EVERY 3 WEEKS (DOSE FORM: 293)
     Route: 041
     Dates: start: 20171227
  11. TRASTUZUMAB [Suspect]
     Active Substance: TRASTUZUMAB
     Dosage: 500 MG, Q3WK/EVERY 3 WEEKS (DOSE FORM: 230)
     Route: 042
     Dates: start: 20171227
  12. TRASTUZUMAB [Suspect]
     Active Substance: TRASTUZUMAB
     Dosage: 600 MG, EVERY 3 WEEKS (DOSE FORM: 230; CUMULATIVE DOSE TO FIRST REACTION: 28.571428 MG)
     Route: 042
     Dates: start: 20150420
  13. TRASTUZUMAB [Suspect]
     Active Substance: TRASTUZUMAB
     Dosage: 600 MG, Q3W, (DOSE FORM: 200; CUMULATIVE DOSE TO FIRST REACTION: 44358.93 MG)
     Route: 042
     Dates: start: 20150420
  14. TRASTUZUMAB [Suspect]
     Active Substance: TRASTUZUMAB
     Dosage: (DOSE FORM: 230; CUMULATIVE DOSE TO FIRST REACTION:28.571428 MG)
     Route: 041
     Dates: start: 20150420
  15. TRASTUZUMAB [Suspect]
     Active Substance: TRASTUZUMAB
     Dosage: 1500 MILLIGRAM, Q3WK (CUMULATIVE DOSE: 22857.143 MG)
     Route: 042
     Dates: start: 20171227
  16. TRASTUZUMAB [Suspect]
     Active Substance: TRASTUZUMAB
     Dosage: 600 MG, Q3W, (CUMULATIVE DOSE TO FIRST REACTION: 37201.19 MG)
     Route: 042
     Dates: start: 20150420
  17. TRASTUZUMAB [Suspect]
     Active Substance: TRASTUZUMAB
     Dosage: 500 MILLIGRAM, Q3WK (CUMULATIVE DOSE: 7619.048 MG)
     Route: 042
     Dates: start: 20171227
  18. TRASTUZUMAB [Suspect]
     Active Substance: TRASTUZUMAB
     Dosage: 600 MILLIGRAM, Q3W
     Route: 042
  19. DOCETAXEL [Suspect]
     Active Substance: DOCETAXEL
     Indication: Breast cancer
     Dosage: 150 MG EVERY 3 WEEKS; 150 MG, TIW CUMULATIVE DOSE TO FIRST REACTION: 630 MG
     Route: 042
     Dates: start: 20150421, end: 20150421
  20. DOCETAXEL [Suspect]
     Active Substance: DOCETAXEL
     Indication: HER2 positive breast cancer
     Dosage: 120 MG, Q3W/EVERY 3 WEEKS
     Route: 042
     Dates: start: 20150512, end: 20150804
  21. DOCETAXEL [Suspect]
     Active Substance: DOCETAXEL
     Indication: Breast cancer female
     Dosage: 120 MG, Q3W/EVERY 3 WEEKS
     Route: 042
     Dates: start: 20150512, end: 20150804
  22. DOCETAXEL [Suspect]
     Active Substance: DOCETAXEL
     Dosage: 150 MG, TIW (EVERY 3 WEEKS)
     Route: 042
     Dates: start: 20150421, end: 20150421
  23. DOCETAXEL [Suspect]
     Active Substance: DOCETAXEL
     Dosage: 150 MG, TIW (EVERY 3 WEEKS)
     Route: 042
     Dates: start: 20150421, end: 20150421
  24. DOCETAXEL [Suspect]
     Active Substance: DOCETAXEL
     Dosage: 120 MG, TIW (EVERY 3 WEEKS)
     Route: 042
     Dates: start: 20150512
  25. DOCETAXEL [Suspect]
     Active Substance: DOCETAXEL
     Dosage: 150 MG, Q2WK/EVERY 2 WEEKS CUMULATIVE DOSE TO FIRST REACTION: 630 MG
     Route: 042
     Dates: start: 20150421, end: 20150421
  26. DOCETAXEL [Suspect]
     Active Substance: DOCETAXEL
     Dosage: 150 MG, Q2WK/EVERY 2 WEEKS
     Route: 042
     Dates: start: 20150421, end: 20150421
  27. DOCETAXEL [Suspect]
     Active Substance: DOCETAXEL
     Dosage: 150 MG, Q2WK/EVERY 2 WEEKS (DOSE FORM: 17)
     Route: 042
     Dates: start: 20150421, end: 20150421
  28. DOCETAXEL [Suspect]
     Active Substance: DOCETAXEL
     Dosage: 120 MG, EVERY 3 WEEKS (DOSE FORM: 16)
     Route: 042
     Dates: start: 20150512, end: 20150512
  29. DOCETAXEL [Suspect]
     Active Substance: DOCETAXEL
     Dosage: 150 MG, Q2WK/EVERY 2 WEEKS (DOSE FORM: 16)
     Route: 042
     Dates: start: 20150421, end: 20150421
  30. DOCETAXEL [Suspect]
     Active Substance: DOCETAXEL
     Dosage: 150 MG, EVERY 3 WEEKS (DOSE FORM: 16)
     Route: 042
     Dates: start: 20150421, end: 20150421
  31. DOCETAXEL [Suspect]
     Active Substance: DOCETAXEL
     Dosage: 120 MG, EVERY 3 WEEKS (DOSE FORM: 16) CUMULATIVE DOSE TO FIRST REACTION: 630 MG
     Route: 042
     Dates: start: 20150804, end: 20150804
  32. DOCETAXEL [Suspect]
     Active Substance: DOCETAXEL
     Dosage: 240 MILLIGRAM, QWK CUMULATIVE DOSE TO FIRST REACTION: 630 MG
     Dates: start: 20150512, end: 20150804
  33. DOCETAXEL [Suspect]
     Active Substance: DOCETAXEL
     Dosage: 300 MILLIGRAM, QWK CUMULATIVE DOSE TO FIRST REACTION: 630 MG
     Route: 042
     Dates: start: 20150421, end: 20150421
  34. DOCETAXEL [Suspect]
     Active Substance: DOCETAXEL
     Indication: Breast cancer metastatic
     Dosage: 120 MG, EVERY 3 WEEKS
     Route: 042
     Dates: start: 20150512, end: 20150804
  35. DOCETAXEL [Suspect]
     Active Substance: DOCETAXEL
     Indication: Breast cancer
     Dosage: 120 MG, EVERY 3 WEEKS
     Route: 042
     Dates: start: 20150512, end: 20150804
  36. DOCETAXEL [Suspect]
     Active Substance: DOCETAXEL
     Indication: HER2 positive breast cancer
     Dosage: 150 MG, EVERY 3 WEEKS
     Route: 042
     Dates: start: 20150421, end: 20150421
  37. DOCETAXEL [Suspect]
     Active Substance: DOCETAXEL
     Dosage: 150 MG, EVERY 3 WEEKS
     Route: 042
     Dates: start: 20150421, end: 20150421
  38. DOCETAXEL [Suspect]
     Active Substance: DOCETAXEL
     Dosage: 120 MG, EVERY 3 WEEKS
     Route: 042
     Dates: start: 20150512
  39. DOCETAXEL [Suspect]
     Active Substance: DOCETAXEL
     Dosage: 120 MG, EVERY 3 WEEKS
     Route: 042
     Dates: start: 20150512
  40. DOCETAXEL [Suspect]
     Active Substance: DOCETAXEL
     Dosage: 150 MG, QOW (DOSE FORM: 16)
     Route: 042
     Dates: start: 20150421, end: 20150421
  41. DOCETAXEL [Suspect]
     Active Substance: DOCETAXEL
     Dosage: 120 MG, EVERY 3 WEEKS (CUMULATIVE DOSE TO FIRST REACTION: 125.71429 MG)
     Route: 042
     Dates: start: 20150512, end: 20150804
  42. DOCETAXEL [Suspect]
     Active Substance: DOCETAXEL
     Dosage: 120 MG, EVERY 3 WEEKS (CUMULATIVE DOSE TO FIRST REACTION: 125.71429 MG)
     Route: 042
     Dates: start: 20150512, end: 20150804
  43. DOCETAXEL [Suspect]
     Active Substance: DOCETAXEL
     Dosage: 150 MG EVERY 3 WEEKS (CUMULATIVE DOSE TO FIRST REACTION: 7.142857 MG)
     Route: 042
     Dates: start: 20150421, end: 20150421
  44. DOCETAXEL [Suspect]
     Active Substance: DOCETAXEL
     Dosage: 150 MG EVERY 3 WEEKS (CUMULATIVE DOSE TO FIRST REACTION: 7.142857 MG)
     Route: 042
     Dates: start: 20150421, end: 20150421
  45. DOCETAXEL [Suspect]
     Active Substance: DOCETAXEL
     Dosage: UNKNOWN,UNKNOWN (CUMULATIVE DOSE: 125.71429 MG)
     Route: 042
     Dates: start: 20150512, end: 20150804
  46. DOCETAXEL [Suspect]
     Active Substance: DOCETAXEL
     Dosage: UNKNOWN, UNKNOWN (CUMULATIVE DOSE TO FIRST REACTION: 7.142857 MG)
     Route: 042
     Dates: start: 20150421, end: 20150421
  47. DOCETAXEL [Suspect]
     Active Substance: DOCETAXEL
     Dosage: 150 MG, Q3W (FROM 21 APR 2015)
     Route: 042
     Dates: start: 20150421, end: 20150421
  48. DOCETAXEL [Suspect]
     Active Substance: DOCETAXEL
     Dosage: 120 MILLIGRAM, Q3WK CUMULATIVE DOSE TO FIRST REACTION: 630 MG
     Route: 042
     Dates: start: 20150512, end: 20150804
  49. DOCETAXEL [Suspect]
     Active Substance: DOCETAXEL
     Dosage: 300 MG, 1/WEEK (CUMULATIVE DOSE TO FIRST REACTION: 42.857143 MG)
     Route: 042
     Dates: start: 20150421, end: 20150421
  50. DOCETAXEL [Suspect]
     Active Substance: DOCETAXEL
     Dosage: 300 MG, 1/WEEK (CUMULATIVE DOSE TO FIRST REACTION: 42.857143 MG)
     Route: 042
     Dates: start: 20150421, end: 20150421
  51. DOCETAXEL [Suspect]
     Active Substance: DOCETAXEL
     Indication: HER2 positive breast cancer
     Dosage: 150 MG, Q3W (FROM 21 APR 2015)
     Route: 042
     Dates: start: 20150421, end: 20150421
  52. DOCETAXEL [Suspect]
     Active Substance: DOCETAXEL
     Dosage: 120 MG, Q3W
     Route: 042
     Dates: start: 20150512, end: 20150804
  53. DOCETAXEL [Suspect]
     Active Substance: DOCETAXEL
     Indication: Breast cancer
     Dosage: 150 MILLIGRAM, Q3W, (PHARMACEUTICAL DOSE FORM: 120)
     Route: 042
     Dates: start: 20150421, end: 20150421
  54. DOCETAXEL [Suspect]
     Active Substance: DOCETAXEL
     Dosage: 120 MILLIGRAM, Q3W, (PHARMACEUTICAL DOSE FORM: 120)
     Route: 042
     Dates: start: 20150512, end: 20150804
  55. DOCETAXEL [Suspect]
     Active Substance: DOCETAXEL
     Indication: Breast cancer metastatic
     Dosage: 120 MILLIGRAM, Q3WK
     Route: 042
     Dates: start: 20150804, end: 20150804
  56. DOCETAXEL [Suspect]
     Active Substance: DOCETAXEL
     Dosage: 120 MILLIGRAM, Q3WK
     Route: 042
     Dates: start: 20150512, end: 20150804
  57. DOCETAXEL [Suspect]
     Active Substance: DOCETAXEL
     Dosage: 300 MILLIGRAM, QWK
     Route: 042
     Dates: start: 20150421, end: 20150421
  58. DOCETAXEL [Suspect]
     Active Substance: DOCETAXEL
     Dosage: 240 MILLIGRAM, QWK
     Route: 042
     Dates: start: 20150512, end: 20150804
  59. DOCETAXEL [Suspect]
     Active Substance: DOCETAXEL
     Dosage: 150 MILLIGRAM, Q3WK
     Route: 042
     Dates: start: 20150421, end: 20150421
  60. DOCETAXEL [Suspect]
     Active Substance: DOCETAXEL
     Dosage: 300 MILLIGRAM, Q3W
     Route: 042
     Dates: start: 20150421, end: 20150421
  61. PERTUZUMAB [Suspect]
     Active Substance: PERTUZUMAB
     Indication: Breast cancer
     Dosage: 840 MG, 3/WEEKS
     Route: 042
     Dates: start: 20150420
  62. PERTUZUMAB [Suspect]
     Active Substance: PERTUZUMAB
     Indication: Breast cancer metastatic
     Dosage: 840 MG, Q3WK/EVERY 3 WEEKS
     Route: 042
     Dates: start: 20150420
  63. PERTUZUMAB [Suspect]
     Active Substance: PERTUZUMAB
     Indication: Breast cancer metastatic
     Dosage: 420 MG, Q3WK/EVERY 3 WEEKS CUMULATIVE DOSE TO FIRST REACTION: 26040.834 MG
     Route: 042
     Dates: start: 20150420
  64. PERTUZUMAB [Suspect]
     Active Substance: PERTUZUMAB
     Dosage: 420 MG, Q3WK/EVERY 3 WEEKS (DOSE FORM: 230)
     Route: 042
     Dates: start: 20150420
  65. PERTUZUMAB [Suspect]
     Active Substance: PERTUZUMAB
     Dosage: 840 MG, Q3WK/EVERY 3 WEEKS (DOSE FORM: 230)
     Route: 042
     Dates: start: 20150420
  66. PERTUZUMAB [Suspect]
     Active Substance: PERTUZUMAB
     Dosage: 840 MG, EVERY 3 WEEKS
     Route: 042
  67. PERTUZUMAB [Suspect]
     Active Substance: PERTUZUMAB
     Dosage: 420 MG, Q3WK/EVERY 3 WEEKS (DOSE FORM: 231)
     Route: 042
     Dates: start: 20150420
  68. PERTUZUMAB [Suspect]
     Active Substance: PERTUZUMAB
     Dosage: UNKNOWN,UNKNOWN (CUMULATIVE DOSE: 20.0 MG; DOSE FORM: 230)
     Route: 042
     Dates: start: 20150420
  69. PERTUZUMAB [Suspect]
     Active Substance: PERTUZUMAB
     Dosage: UNKNOWN, UNKNOWN (DOSE FORM: 230)
     Route: 042
     Dates: start: 20150420
  70. PERTUZUMAB [Suspect]
     Active Substance: PERTUZUMAB
     Indication: Breast cancer metastatic
     Dosage: 420 MG, EVERY WEEKS (DOSE FORM:231)
     Route: 042
     Dates: start: 20150420
  71. PERTUZUMAB [Suspect]
     Active Substance: PERTUZUMAB
     Indication: Breast cancer
     Dosage: 840 MG, EVERY 3 WEEKS
     Route: 042
     Dates: start: 20150420
  72. PERTUZUMAB [Suspect]
     Active Substance: PERTUZUMAB
     Dosage: 420 MG, EVERY 3 WEEKS (DOSE FORM:230; CUMULATIVE DOSE TO FIRST REACTION: 20.0 MG)
     Route: 042
     Dates: start: 20150420
  73. PERTUZUMAB [Suspect]
     Active Substance: PERTUZUMAB
     Dosage: 420 MG, EVERY 3 WEEKS (DOSE FORM:230; CUMULATIVE DOSE TO FIRST REACTION: 20.0 MG)
     Route: 042
     Dates: start: 20150420
  74. PERTUZUMAB [Suspect]
     Active Substance: PERTUZUMAB
     Dosage: 840 MG, EVERY 3 WEEKS (DOSE FORM:230; CUMULATIVE DOSE TO FIRST REACTION: 40.0 MG)
     Route: 042
     Dates: start: 20150420
  75. PERTUZUMAB [Suspect]
     Active Substance: PERTUZUMAB
     Dosage: 840 MG, EVERY 3 WEEKS (DOSE FORM:230; CUMULATIVE DOSE TO FIRST REACTION: 40.0 MG)
     Route: 042
     Dates: start: 20150420
  76. PERTUZUMAB [Suspect]
     Active Substance: PERTUZUMAB
     Dosage: 960 MILLIGRAM
     Route: 042
  77. PERTUZUMAB [Suspect]
     Active Substance: PERTUZUMAB
     Dosage: 1680 MILLIGRAM, QWK (CUMULATIVE DOSE: 312490.0 MG)
     Route: 042
     Dates: start: 20150420
  78. PERTUZUMAB [Suspect]
     Active Substance: PERTUZUMAB
     Dosage: 1260MG
     Route: 042
     Dates: start: 20150420
  79. PERTUZUMAB [Suspect]
     Active Substance: PERTUZUMAB
     Dosage: 840 MILLIGRAM, Q3WK (CUMULATIVE DOSE: 52081.668 MG)
     Route: 042
     Dates: start: 20150420
  80. PERTUZUMAB [Suspect]
     Active Substance: PERTUZUMAB
     Dosage: 420 MILLIGRAM, Q3W
     Route: 042
     Dates: start: 20150420
  81. PERTUZUMAB [Suspect]
     Active Substance: PERTUZUMAB
     Dosage: 420 MILLIGRAM, Q3W
     Route: 042
     Dates: start: 20150420
  82. PERTUZUMAB [Suspect]
     Active Substance: PERTUZUMAB
     Indication: HER2 positive breast cancer
     Dosage: 420 MILLIGRAM, Q3W, (PHARMACEUTICAL DOSE FORM: 230)
     Route: 042
     Dates: start: 20150420
  83. PERTUZUMAB [Suspect]
     Active Substance: PERTUZUMAB
     Dosage: 840 MILLIGRAM, Q3W, (PHARMACEUTICAL DOSE FORM: 230) CUMULATIVE DOSE TO FIRST REACTION: 52081.668 MG
     Route: 042
     Dates: start: 20150420
  84. PERTUZUMAB [Suspect]
     Active Substance: PERTUZUMAB
     Dosage: 840 MILLIGRAM, Q3W, (PHARMACEUTICAL DOSE FORM: 230)
     Route: 042
     Dates: start: 20150420
  85. PERTUZUMAB [Suspect]
     Active Substance: PERTUZUMAB
     Dosage: 1680 MILLIGRAM, QWK
     Route: 042
     Dates: start: 20150420
  86. PERTUZUMAB [Suspect]
     Active Substance: PERTUZUMAB
     Dosage: 960 MILLIGRAM
     Route: 042
     Dates: start: 20150420
  87. PERTUZUMAB [Suspect]
     Active Substance: PERTUZUMAB
     Dosage: 1260 MG
     Route: 042
     Dates: start: 20150420
  88. TAXOTERE [Suspect]
     Active Substance: DOCETAXEL
     Indication: HER2 positive breast cancer
     Dosage: 150 MILLIGRAM, Q3W (PHARMACEUTICAL DOSE FORM: 120)
     Route: 042
     Dates: start: 20150421, end: 20150421
  89. TAXOTERE [Suspect]
     Active Substance: DOCETAXEL
     Dosage: 120 MILLIGRAM, Q3W (PHARMACEUTICAL DOSE FORM: 120)
     Route: 042
     Dates: start: 20150512, end: 20150804
  90. ACYCLOVIR [Concomitant]
     Active Substance: ACYCLOVIR
     Indication: Genital herpes
     Dosage: 200 MG, EVERY 0.25 DAY
     Route: 048
     Dates: start: 20170211, end: 20170218
  91. ACYCLOVIR [Concomitant]
     Active Substance: ACYCLOVIR
     Dosage: 800 MG, QD/EVERY 1 DAY (DOSE FORM:245)
     Route: 048
     Dates: start: 20170211, end: 20170218
  92. ACYCLOVIR [Concomitant]
     Active Substance: ACYCLOVIR
     Dosage: 200 MG (DOSE FORM: 245)
     Route: 048
     Dates: start: 20170211, end: 20170218
  93. ACYCLOVIR [Concomitant]
     Active Substance: ACYCLOVIR
     Dosage: 800 MG, QD/EVERY 1 DAY
     Route: 048
     Dates: start: 20170211, end: 20170218
  94. ACYCLOVIR [Concomitant]
     Active Substance: ACYCLOVIR
     Dosage: 200 MG, QD/EVERY 1 DAY
     Route: 048
     Dates: start: 20170211, end: 20170218
  95. ACYCLOVIR [Concomitant]
     Active Substance: ACYCLOVIR
     Dosage: 200 MG, EVERY 0.25 DAY (DOSE FORM: 245)
     Route: 048
     Dates: start: 20170211, end: 20170218
  96. ACYCLOVIR [Concomitant]
     Active Substance: ACYCLOVIR
     Dosage: 200 MG, QID (DOSE FORM: 245)
     Route: 048
     Dates: start: 20170211, end: 20170218
  97. ACYCLOVIR [Concomitant]
     Active Substance: ACYCLOVIR
     Dosage: 400 MG, QID (DOSE FORM: 245)
     Route: 048
     Dates: start: 20170211, end: 20170218
  98. ACYCLOVIR [Concomitant]
     Active Substance: ACYCLOVIR
     Dosage: 800 MG, EVERY 1 DAY (DOSE FORM:245; CUMULATIVE DOSE TO FIRST REACTION: 530433.3 MG)
     Route: 048
     Dates: start: 20170211, end: 20170218
  99. ACYCLOVIR [Concomitant]
     Active Substance: ACYCLOVIR
     Dosage: 200 MILLIGRAM, QD
     Route: 048
     Dates: start: 20170211, end: 20170218
  100. ACYCLOVIR [Concomitant]
     Active Substance: ACYCLOVIR
     Dosage: 800 MILLIGRAM, QD, 200 MILLIGRAM,QID)
     Dates: start: 20170211, end: 20170218
  101. ACYCLOVIR [Concomitant]
     Active Substance: ACYCLOVIR
     Dosage: 200 MG
     Dates: start: 20170211, end: 20170218
  102. CALCIUM CARBONATE\CHOLECALCIFEROL [Concomitant]
     Active Substance: CALCIUM CARBONATE\CHOLECALCIFEROL
     Indication: Product used for unknown indication
     Dosage: 0.5 DAY (DOSE FORM: 245)
     Route: 048
     Dates: start: 20150623, end: 20150625
  103. CALCIUM CARBONATE\CHOLECALCIFEROL [Concomitant]
     Active Substance: CALCIUM CARBONATE\CHOLECALCIFEROL
     Dosage: 2 DF EVERY 1 DAY (DOSE FORM: 245)
     Route: 048
     Dates: start: 20150623, end: 20150625
  104. CALCIUM CARBONATE\CHOLECALCIFEROL [Concomitant]
     Active Substance: CALCIUM CARBONATE\CHOLECALCIFEROL
     Dosage: 1 TABLET (2 EVERY 1 DAY/DOSE FORM: 245)
     Route: 048
     Dates: start: 20150623, end: 20150625
  105. CALCIUM CARBONATE\CHOLECALCIFEROL [Concomitant]
     Active Substance: CALCIUM CARBONATE\CHOLECALCIFEROL
     Dosage: 1 TABLET EVERY 0.5 DAY
     Route: 048
     Dates: start: 20150623, end: 20150625
  106. CALCIUM CARBONATE\CHOLECALCIFEROL [Concomitant]
     Active Substance: CALCIUM CARBONATE\CHOLECALCIFEROL
     Dosage: UNK UNK, QD/1 EVERY 1 DAY (1 TABLET)
     Route: 048
     Dates: start: 20150623, end: 20150625
  107. CALCIUM CARBONATE\CHOLECALCIFEROL [Concomitant]
     Active Substance: CALCIUM CARBONATE\CHOLECALCIFEROL
     Dosage: 0.5 MG,  QD/EVERY 1 DAY
     Route: 048
     Dates: start: 20150623, end: 20150625
  108. CALCIUM CARBONATE\CHOLECALCIFEROL [Concomitant]
     Active Substance: CALCIUM CARBONATE\CHOLECALCIFEROL
     Dosage: UNK, BID (2 EVERY 1 DAY/DOSE FORM: 245)
     Route: 048
     Dates: start: 20150623, end: 20150625
  109. CALCIUM CARBONATE\CHOLECALCIFEROL [Concomitant]
     Active Substance: CALCIUM CARBONATE\CHOLECALCIFEROL
     Dosage: EVERY 12 HR/BID (DOSE FORM: 245)
     Route: 048
     Dates: start: 20150623, end: 20150625
  110. CALCIUM CARBONATE\CHOLECALCIFEROL [Concomitant]
     Active Substance: CALCIUM CARBONATE\CHOLECALCIFEROL
     Dosage: 1 DF EVERY12HR/ BID (DOSE FORM: 245)
     Route: 048
     Dates: start: 20150623, end: 20150625
  111. CALCIUM CARBONATE\CHOLECALCIFEROL [Concomitant]
     Active Substance: CALCIUM CARBONATE\CHOLECALCIFEROL
     Dosage: DOSE: 2, DAILY, (DOSE FORM: 245)
     Route: 048
     Dates: start: 20150623, end: 20150625
  112. CALCIUM CARBONATE\CHOLECALCIFEROL [Concomitant]
     Active Substance: CALCIUM CARBONATE\CHOLECALCIFEROL
     Dosage: 2DF, QD (CUMULATIVE DOSE TO FIRST REACTION: 6 DF)
     Route: 048
     Dates: start: 20150623, end: 20150625
  113. CALCIUM CARBONATE\CHOLECALCIFEROL [Concomitant]
     Active Substance: CALCIUM CARBONATE\CHOLECALCIFEROL
     Dosage: 0.5 MILLIGRAM
  114. CALCIUM CARBONATE\CHOLECALCIFEROL [Concomitant]
     Active Substance: CALCIUM CARBONATE\CHOLECALCIFEROL
     Dosage: 0.5 MILLIGRAM, QD, (0.5 MILLIGRAM)
     Route: 048
  115. ALGINIC ACID [Concomitant]
     Active Substance: ALGINIC ACID
     Dosage: ADDITIONAL INFO: GAVISCON
  116. ALTHAEA OFFICINALIS EXTRACT [Concomitant]
     Indication: Eczema
     Dosage: UNK; ;ADDITIONAL INFO: AQUEOUS EXTRACT FROM ALTHAEA OFFIC. RAD
  117. ALTHAEA OFFICINALIS EXTRACT [Concomitant]
     Dosage: (DOSE FORM: 17)
     Route: 061
     Dates: start: 20181112
  118. ALTHAEA OFFICINALIS EXTRACT [Concomitant]
     Dosage: UNK
     Route: 061
     Dates: start: 20181112
  119. AMOXIL [Concomitant]
     Active Substance: AMOXICILLIN
     Indication: Chest pain
     Dosage: 500 MILLIGRAM, QD (DOSE FORM:245; CUMULATIVE DOSE: 491020.84 MG)
     Route: 048
     Dates: start: 20171227, end: 20180102
  120. AMOXIL [Concomitant]
     Active Substance: AMOXICILLIN
     Indication: Lower respiratory tract infection
     Dosage: 500 MG EVERY 1 DAY (DOSE FORM: 245)
     Route: 048
     Dates: start: 20171227, end: 20180102
  121. AMOXIL [Concomitant]
     Active Substance: AMOXICILLIN
     Dosage: 500 MG QD/EVERY 1 DAY
     Route: 048
     Dates: start: 20171227, end: 20180102
  122. AMOXIL [Concomitant]
     Active Substance: AMOXICILLIN
     Dosage: 625 MG EVERY 1 DAY (DOSE FORM: 245)
     Route: 048
     Dates: start: 20180220, end: 20180225
  123. AMOXIL [Concomitant]
     Active Substance: AMOXICILLIN
     Dosage: 1875 MG, QD/EVERY 1 DAY (DOSE FORM: 245)
     Route: 048
     Dates: start: 20180225
  124. AMOXICILLIN [Concomitant]
     Active Substance: AMOXICILLIN
     Indication: Influenza
     Dosage: UNK
     Route: 065
  125. AMOXICILLIN [Concomitant]
     Active Substance: AMOXICILLIN
     Indication: Lower respiratory tract infection
     Dosage: UNK
  126. AMOXICILLIN [Concomitant]
     Active Substance: AMOXICILLIN
     Indication: Chest pain
     Dosage: 625 MG, QD/EVERY 1 DAY CUMULATIVE DOSE TO FIRST REACTION: 3500 MG
     Route: 048
     Dates: start: 20180220, end: 20180225
  127. AMOXICILLIN [Concomitant]
     Active Substance: AMOXICILLIN
     Dosage: 500 MG, EVERY 1 DAY (DOSAGE FORM: 245; CUMULATIVE DOSE TO FIRST REACTION: 491020.84 MG)
     Route: 048
     Dates: start: 20171227, end: 20180102
  128. AMOXICILLIN [Concomitant]
     Active Substance: AMOXICILLIN
     Dosage: 500 MG, EVERY 1 DAY (DOSAGE FORM: 245; CUMULATIVE DOSE TO FIRST REACTION: 3500 MG)
     Route: 048
     Dates: start: 20171227, end: 20180102
  129. AMOXICILLIN [Concomitant]
     Active Substance: AMOXICILLIN
     Dosage: 625 MILLIGRAM, QD (CUMULATIVE DOSE: 648151.06MG)
     Route: 048
     Dates: start: 20180220, end: 20180225
  130. AMOXICILLIN [Concomitant]
     Active Substance: AMOXICILLIN
     Dosage: 625 MILLIGRAM, QD (CUMULATIVE DOSE: 648151.06MG)
     Route: 048
     Dates: start: 20180220, end: 20180225
  131. AMOXICILLIN [Concomitant]
     Active Substance: AMOXICILLIN
     Dosage: 500 MILLIGRAM, QD (CUMULATIV DOSE: 491020.84 MG)
     Route: 048
     Dates: start: 20171227, end: 20180102
  132. AMOXICILLIN [Concomitant]
     Active Substance: AMOXICILLIN
     Dosage: 500 MILLIGRAM, QD (CUMULATIV DOSE: 491020.84 MG)
     Route: 048
     Dates: start: 20171227, end: 20180102
  133. AMOXICILLIN [Concomitant]
     Active Substance: AMOXICILLIN
     Dosage: 500 MILLIGRAM, QD (CUMULATIV DOSE: 491020.84 MG)
     Route: 048
     Dates: start: 20171227, end: 20180102
  134. AMOXICILLIN\CLAVULANATE POTASSIUM [Concomitant]
     Active Substance: AMOXICILLIN\CLAVULANATE POTASSIUM
     Indication: Influenza
     Dosage: 625 MG, 0.33/DAY
     Route: 048
     Dates: start: 20180225
  135. AMOXICILLIN\CLAVULANATE POTASSIUM [Concomitant]
     Active Substance: AMOXICILLIN\CLAVULANATE POTASSIUM
     Dosage: 1875, QD/EVERY 1 DAY
     Route: 048
     Dates: start: 20180225
  136. AMOXICILLIN\CLAVULANATE POTASSIUM [Concomitant]
     Active Substance: AMOXICILLIN\CLAVULANATE POTASSIUM
     Dosage: 625 MG EVERY 1 DAY
     Route: 048
     Dates: start: 20180220, end: 20180225
  137. AMOXICILLIN\CLAVULANATE POTASSIUM [Concomitant]
     Active Substance: AMOXICILLIN\CLAVULANATE POTASSIUM
     Dosage: 625 MG, QD (CUMULATIVE DOSE: 648151.041 MG)
     Route: 048
     Dates: start: 20180220, end: 20180225
  138. AMOXICILLIN\CLAVULANATE POTASSIUM [Concomitant]
     Active Substance: AMOXICILLIN\CLAVULANATE POTASSIUM
     Dosage: 1875 MILLIGRAM, QD
     Route: 048
     Dates: start: 20180220, end: 20180225
  139. AQUEOUS [EMULSIFYING WAX;PARAFFIN, LIQUID;WHITE SOFT PARAFFIN] [Concomitant]
     Indication: Eczema
     Dosage: 1 AS NEEDED (DOSE FORM: 17)
     Route: 061
     Dates: start: 20181112
  140. AQUEOUS [EMULSIFYING WAX;PARAFFIN, LIQUID;WHITE SOFT PARAFFIN] [Concomitant]
     Dosage: UNK
     Route: 061
     Dates: start: 20181112
  141. AQUEOUS [EMULSIFYING WAX;PARAFFIN, LIQUID;WHITE SOFT PARAFFIN] [Concomitant]
     Dosage: 1 AS NECESSARY
     Route: 061
     Dates: start: 20181112
  142. AQUEOUS [EMULSIFYING WAX;PARAFFIN, LIQUID;WHITE SOFT PARAFFIN] [Concomitant]
     Dosage: (DOSE FORM: 17)
     Dates: start: 20181112
  143. AQUEOUS [EMULSIFYING WAX;PARAFFIN, LIQUID;WHITE SOFT PARAFFIN] [Concomitant]
     Dosage: UNK (START DATE :12-NOV-2018 )
     Route: 061
  144. AVEENO [Concomitant]
     Active Substance: DIMETHICONE\HOMOSALATE\OCTINOXATE\OCTISALATE\TITANIUM DIOXIDE
     Indication: Eczema
     Dosage: DOSE FORM: 17
     Route: 061
     Dates: start: 20190114
  145. AVEENO [Concomitant]
     Active Substance: DIMETHICONE\HOMOSALATE\OCTINOXATE\OCTISALATE\TITANIUM DIOXIDE
     Dosage: UNK (START DATE :14-JAN-2019 )
     Route: 061
  146. AVEENO [Concomitant]
     Active Substance: DIMETHICONE\HOMOSALATE\OCTINOXATE\OCTISALATE\TITANIUM DIOXIDE
     Dosage: UNK
     Dates: start: 20190114
  147. IBUPROFEN [Concomitant]
     Active Substance: IBUPROFEN
     Indication: Arthralgia
     Dosage: 200 MG, 0.5 DAY
     Route: 048
     Dates: start: 20150420, end: 20150426
  148. IBUPROFEN [Concomitant]
     Active Substance: IBUPROFEN
     Dosage: 400 MG, EVERY1 DAY (DOSE FORM: 245)
     Route: 048
     Dates: start: 20150420, end: 20150426
  149. IBUPROFEN [Concomitant]
     Active Substance: IBUPROFEN
     Dosage: 400 MG, QD/EVERY1 DAY
     Route: 048
     Dates: start: 20150420, end: 20150426
  150. IBUPROFEN [Concomitant]
     Active Substance: IBUPROFEN
     Dosage: 200 MG, BID/EVERY 12 HR (DOSE FORM: 245)
     Route: 048
     Dates: start: 20150420, end: 20150426
  151. IBUPROFEN [Concomitant]
     Active Substance: IBUPROFEN
     Dosage: 400 MILLIGRAM CUMULATIVE DOSE TO FIRST REACTION: 2800 MG
     Route: 048
     Dates: start: 20161229
  152. IBUPROFEN [Concomitant]
     Active Substance: IBUPROFEN
     Dosage: 200 MG, QD (CUMULATIVE DOSE TO FIRST REACTION: 200MG)
     Route: 048
     Dates: start: 20150420, end: 20150420
  153. IBUPROFEN [Concomitant]
     Active Substance: IBUPROFEN
     Dosage: 200 MILLIGRAM, BID
     Route: 048
     Dates: start: 20150420, end: 20150426
  154. CALCEOS [Concomitant]
     Active Substance: CALCIUM CARBONATE\CHOLECALCIFEROL
     Indication: Product used for unknown indication
     Dosage: (DOSE:1; DOSE FORM:245)
     Route: 048
     Dates: start: 20150713, end: 20150824
  155. CALCEOS [Concomitant]
     Active Substance: CALCIUM CARBONATE\CHOLECALCIFEROL
     Dosage: 1 DF 1 EVERY 1 DAY (DOSE FORM: 245)
     Route: 048
     Dates: start: 20150713, end: 20150824
  156. CALCEOS [Concomitant]
     Active Substance: CALCIUM CARBONATE\CHOLECALCIFEROL
     Dosage: UNK, 1 TABLET 1 QD/EVERY 1 DAY (DOSE FORM: 245)
     Route: 048
     Dates: start: 20150713
  157. CALCEOS [Concomitant]
     Active Substance: CALCIUM CARBONATE\CHOLECALCIFEROL
     Dosage: 1 TABLET EVERY 1 DAY
     Route: 048
     Dates: start: 20150713
  158. CALCEOS [Concomitant]
     Active Substance: CALCIUM CARBONATE\CHOLECALCIFEROL
     Dosage: UNK, 1 QD/EVERY 1 DAY
     Route: 048
     Dates: start: 20150713, end: 20150824
  159. CALCEOS [Concomitant]
     Active Substance: CALCIUM CARBONATE\CHOLECALCIFEROL
     Dosage: UNK, 1 QD/EVERY 1 DAY (DOSE FORM: 245)
     Route: 048
     Dates: start: 20150713, end: 20150824
  160. CALCEOS [Concomitant]
     Active Substance: CALCIUM CARBONATE\CHOLECALCIFEROL
     Dosage: DOSE: 1, DAILY (DOSE FORM: 245)
     Route: 048
     Dates: start: 20150713, end: 20150824
  161. CALCEOS [Concomitant]
     Active Substance: CALCIUM CARBONATE\CHOLECALCIFEROL
     Dosage: UNK UNK, QD
     Route: 048
     Dates: start: 20150713, end: 20150824
  162. CALCEOS [Concomitant]
     Active Substance: CALCIUM CARBONATE\CHOLECALCIFEROL
     Dosage: 1 DF, QD
     Route: 048
     Dates: start: 20150713, end: 20150824
  163. CODEINE [Concomitant]
     Active Substance: CODEINE
     Indication: Arthralgia
     Dosage: 30 MG, AS NEEDED/AS NECESSARY
     Route: 048
     Dates: start: 20151221, end: 20160425
  164. CODEINE [Concomitant]
     Active Substance: CODEINE
     Dosage: 30 MG (DOSE FORM: 245)
     Route: 048
     Dates: start: 20151221, end: 20160425
  165. CODEINE [Concomitant]
     Active Substance: CODEINE
     Dosage: UNK, AS NECCESSARY (DOSE FORM: 245)
     Route: 065
     Dates: start: 20151221, end: 20160425
  166. CODEINE [Concomitant]
     Active Substance: CODEINE
     Dosage: UNK
     Dates: start: 20151221, end: 20160425
  167. CODEINE [Concomitant]
     Active Substance: CODEINE
     Dosage: UNK
  168. CODEINE [Concomitant]
     Active Substance: CODEINE
     Dosage: 30 MG
     Route: 048
     Dates: start: 20160816
  169. CODEINE [Concomitant]
     Active Substance: CODEINE
     Dosage: 30 MG
     Route: 048
     Dates: start: 20151221, end: 20160425
  170. CODEINE PHOSPHATE [Concomitant]
     Active Substance: CODEINE PHOSPHATE
     Indication: Arthralgia
     Dosage: 30 MG AS NECESSARY (DOSE FORM: 245)
     Route: 048
     Dates: start: 20160816
  171. CODEINE PHOSPHATE [Concomitant]
     Active Substance: CODEINE PHOSPHATE
     Dosage: 30 MG
     Route: 048
     Dates: start: 20160816
  172. CODEINE PHOSPHATE [Concomitant]
     Active Substance: CODEINE PHOSPHATE
     Dosage: 30 MG (DOSE FORM: 245)
     Route: 048
     Dates: start: 20160816
  173. CODEINE PHOSPHATE [Concomitant]
     Active Substance: CODEINE PHOSPHATE
     Dosage: 30 MILLIGRAM, PRN (AS NECESSARY); (DOSE FORM: 245)
     Route: 048
     Dates: start: 20160816
  174. PFIZER-BIONTECH COVID-19 VACCINE [Concomitant]
     Active Substance: TOZINAMERAN
     Dosage: 30 MICROGRAM, QD/EVERY 1 DAY (OTHER)
     Route: 030
     Dates: start: 20210204, end: 20210204
  175. PFIZER-BIONTECH COVID-19 VACCINE [Concomitant]
     Active Substance: TOZINAMERAN
     Dosage: 30 MICROGRAM, QD/EVERY 1 DAY (OTHER)
     Route: 030
     Dates: start: 20210422, end: 20210422
  176. PFIZER-BIONTECH COVID-19 VACCINE [Concomitant]
     Active Substance: TOZINAMERAN
     Dosage: UNK
  177. PFIZER-BIONTECH COVID-19 VACCINE [Concomitant]
     Active Substance: TOZINAMERAN
     Dosage: 30 MICROGRAM
     Route: 030
     Dates: start: 20210204, end: 20210204
  178. PFIZER-BIONTECH COVID-19 VACCINE [Concomitant]
     Active Substance: TOZINAMERAN
     Dosage: 30 MICROGRAM
     Route: 030
     Dates: start: 20210422, end: 20210422
  179. AMOXICILLIN\CLAVULANATE POTASSIUM [Concomitant]
     Active Substance: AMOXICILLIN\CLAVULANATE POTASSIUM
     Indication: Influenza
     Dosage: 1875 MG QD CUMULATIVE DOSE TO FIRST REACTION: 3750 MG
     Route: 048
     Dates: start: 20180220, end: 20180225
  180. AMOXICILLIN\CLAVULANATE POTASSIUM [Concomitant]
     Active Substance: AMOXICILLIN\CLAVULANATE POTASSIUM
     Dosage: 3, EVERY 1 DAY (DOSE FORM: 245)
     Route: 048
     Dates: start: 20180220, end: 20180225
  181. AMOXICILLIN\CLAVULANATE POTASSIUM [Concomitant]
     Active Substance: AMOXICILLIN\CLAVULANATE POTASSIUM
     Dosage: 625 MG, EVERY 1 DAY (CUMULATIVE DOSE: 648151.06 MG; DOSE FORM: 245)
     Route: 048
     Dates: start: 20180220, end: 20180225
  182. AMOXICILLIN\CLAVULANATE POTASSIUM [Concomitant]
     Active Substance: AMOXICILLIN\CLAVULANATE POTASSIUM
     Dosage: EVERY 0.3 DAY
     Route: 048
     Dates: start: 20180220, end: 20180225
  183. AMOXICILLIN\CLAVULANATE POTASSIUM [Concomitant]
     Active Substance: AMOXICILLIN\CLAVULANATE POTASSIUM
     Dosage: UNK UNK, QD/EVERY 1 DAY
     Route: 048
     Dates: start: 20180220, end: 20180225
  184. AMOXICILLIN\CLAVULANATE POTASSIUM [Concomitant]
     Active Substance: AMOXICILLIN\CLAVULANATE POTASSIUM
     Dosage: UNK
     Dates: start: 20180220, end: 20180225
  185. AMOXICILLIN\CLAVULANATE POTASSIUM [Concomitant]
     Active Substance: AMOXICILLIN\CLAVULANATE POTASSIUM
     Dosage: 625 MG, QD CUMULATIVE DOSE TO FIRST REACTION: 3750 MG
     Route: 048
     Dates: start: 20180220, end: 20180225
  186. AMOXICILLIN\CLAVULANATE POTASSIUM [Concomitant]
     Active Substance: AMOXICILLIN\CLAVULANATE POTASSIUM
     Dosage: 625 MG, 0.33 DAY
     Route: 048
     Dates: start: 20180225
  187. AMOXICILLIN\CLAVULANATE POTASSIUM [Concomitant]
     Active Substance: AMOXICILLIN\CLAVULANATE POTASSIUM
     Dosage: 625 MG, Q8H/TID (DOSE FORM: 245)
     Route: 048
     Dates: start: 20180220, end: 20180225
  188. AMOXICILLIN\CLAVULANATE POTASSIUM [Concomitant]
     Active Substance: AMOXICILLIN\CLAVULANATE POTASSIUM
     Dosage: 625 MG, EVERY 1 DAY (DOSAGE FORM: 245; CUMULATIVE DOSE TO FIRST REACTION: 648151. 06 MG)
     Route: 048
     Dates: start: 20180220, end: 20180225
  189. AMOXICILLIN\CLAVULANATE POTASSIUM [Concomitant]
     Active Substance: AMOXICILLIN\CLAVULANATE POTASSIUM
     Dosage: 1875 MILLIGRAM, QD CUMULATIVE DOSE TO FIRST REACTION: 3750 MG
     Route: 048
     Dates: start: 20180225, end: 20180225
  190. AMOXICILLIN\CLAVULANATE POTASSIUM [Concomitant]
     Active Substance: AMOXICILLIN\CLAVULANATE POTASSIUM
     Dosage: 625 MILLIGRAM, QD
     Route: 048
     Dates: start: 20180220, end: 20180225
  191. AMOXICILLIN\CLAVULANATE POTASSIUM [Concomitant]
     Active Substance: AMOXICILLIN\CLAVULANATE POTASSIUM
     Dosage: 1875 MILLIGRAM, QD CUMULATIVE DOSE TO FIRST REACTION: 1944453.1 MG
     Route: 048
     Dates: start: 20180220, end: 20180225
  192. AMOXICILLIN\CLAVULANATE POTASSIUM [Concomitant]
     Active Substance: AMOXICILLIN\CLAVULANATE POTASSIUM
     Dosage: 1875 MILLIGRAM, QD CUMULATIVE DOSE TO FIRST REACTION: 1953828.1 MG
     Route: 048
     Dates: start: 20180225
  193. AMOXICILLIN\CLAVULANATE POTASSIUM [Concomitant]
     Active Substance: AMOXICILLIN\CLAVULANATE POTASSIUM
     Dosage: 625 MILLIGRAM, QD CUMULATIVE DOSE TO FIRST REACTION: 648151.06 MG
     Route: 048
     Dates: start: 20180220, end: 20180225
  194. AMOXICILLIN\CLAVULANATE POTASSIUM [Concomitant]
     Active Substance: AMOXICILLIN\CLAVULANATE POTASSIUM
     Dosage: 625 MILLIGRAM, QD CUMULATIVE DOSE TO FIRST REACTION: 648151.06 MG
     Route: 048
     Dates: start: 20180220, end: 20180225
  195. AMOXICILLIN\CLAVULANATE POTASSIUM [Concomitant]
     Active Substance: AMOXICILLIN\CLAVULANATE POTASSIUM
     Dosage: 1875 MILLIGRAM, QD
     Route: 048
     Dates: start: 20180220, end: 20180225
  196. AMOXICILLIN\CLAVULANATE POTASSIUM [Concomitant]
     Active Substance: AMOXICILLIN\CLAVULANATE POTASSIUM
     Dosage: 1875 MILLIGRAM, QD
     Route: 048
     Dates: start: 20180225, end: 20180225
  197. DENOSUMAB [Concomitant]
     Active Substance: DENOSUMAB
     Indication: Product used for unknown indication
     Dosage: 120 MILLGRAM, MONTHLY (CUMULATIVE DOSE: 2760 MG)
     Dates: start: 20150623, end: 20170508
  198. DENOSUMAB [Concomitant]
     Active Substance: DENOSUMAB
     Dosage: 120 MG, MONTHLY
     Route: 058
     Dates: start: 20150623, end: 20170508
  199. DENOSUMAB [Concomitant]
     Active Substance: DENOSUMAB
     Dosage: 120 MG 0.5 IN A DAY
     Route: 048
     Dates: start: 20180115
  200. DENOSUMAB [Concomitant]
     Active Substance: DENOSUMAB
     Dosage: 120 MG, BID (DOSE FORM: 245)
     Route: 048
     Dates: start: 20180115
  201. DENOSUMAB [Concomitant]
     Active Substance: DENOSUMAB
     Dosage: 120 MG EVERY 1 MONTH
     Route: 058
     Dates: start: 20150623
  202. DENOSUMAB [Concomitant]
     Active Substance: DENOSUMAB
     Dosage: 120 MG, QMO EVERY 1 MONTH (DOSE FORM: 245)
     Route: 058
     Dates: start: 20150623, end: 20170508
  203. DENOSUMAB [Concomitant]
     Active Substance: DENOSUMAB
     Dosage: 120 MG, QMO EVERY 1 MONTH (DOSE FORM: 245)
     Route: 058
     Dates: start: 20150623
  204. DENOSUMAB [Concomitant]
     Active Substance: DENOSUMAB
     Dosage: 120 MG, QD/EVERY 1 DAY (DOSE FORM: 245)
     Route: 048
     Dates: start: 20180115
  205. DENOSUMAB [Concomitant]
     Active Substance: DENOSUMAB
     Dosage: 120 MG EVERY 0.5 DAY
     Route: 048
  206. DENOSUMAB [Concomitant]
     Active Substance: DENOSUMAB
     Dosage: 240 MILLIGRAM, QD (DOSAGE FORM:245; CUMULATIVE DOSE: 8160.0 MG)
     Route: 048
     Dates: start: 20180115
  207. DENOSUMAB [Concomitant]
     Active Substance: DENOSUMAB
     Dosage: 120 MILLIGRAM, BID, (DOSAGE FORM:245; CUMULATIVE DOSE: 8160.0 MG)
     Route: 048
     Dates: start: 20180115
  208. DENOSUMAB [Concomitant]
     Active Substance: DENOSUMAB
     Dosage: 120 MG EVERY 1 MONTH (CUMULATIVE DOSE TO FIRST REACTION: 256.0 MG)
     Route: 058
     Dates: start: 20150623, end: 20170508
  209. DENOSUMAB [Concomitant]
     Active Substance: DENOSUMAB
     Dosage: 120 MG EVERY 1 MONTH (CUMULATIVE DOSE TO FIRST REACTION: 256.0 MG)
     Route: 058
     Dates: start: 20150623, end: 20170508
  210. DENOSUMAB [Concomitant]
     Active Substance: DENOSUMAB
     Dosage: 240 MG, EVERY 1 DAY (DOSAGE FORM:245; CUMULATIVE DOSE TO FIRST REACTION: 240250.0 MG)
     Route: 048
     Dates: start: 20180115
  211. DENOSUMAB [Concomitant]
     Active Substance: DENOSUMAB
     Dosage: 240 MG, EVERY 1 DAY (DOSAGE FORM:245; CUMULATIVE DOSE TO FIRST REACTION: 240250.0 MG)
     Route: 048
     Dates: start: 20180115
  212. DENOSUMAB [Concomitant]
     Active Substance: DENOSUMAB
     Dosage: UNKNOWN, UNKNOWN (CUMULATIVE DOSE: 256.0 MG)
     Route: 058
     Dates: start: 20150623, end: 20170508
  213. DENOSUMAB [Concomitant]
     Active Substance: DENOSUMAB
     Dosage: UNKNOWN, UNKNOWN (DOSAGE FORM:245; CUMULATIVE DOSE TO FIRST REACTION: 240250.0 MG)
     Route: 048
     Dates: start: 20180115
  214. DENOSUMAB [Concomitant]
     Active Substance: DENOSUMAB
     Dosage: 120 MG, QMO
     Route: 058
     Dates: start: 20150623, end: 20170508
  215. DENOSUMAB [Concomitant]
     Active Substance: DENOSUMAB
     Dosage: 240 MG, QD
     Route: 048
     Dates: start: 20180115
  216. DENOSUMAB [Concomitant]
     Active Substance: DENOSUMAB
     Dosage: 120 MG, BID
     Route: 048
     Dates: start: 20180115
  217. DENOSUMAB [Concomitant]
     Active Substance: DENOSUMAB
     Dosage: 120 MILLIGRAM, MONTHLY
     Route: 058
     Dates: start: 20150623, end: 20170508
  218. DOMPERIDONE [Concomitant]
     Active Substance: DOMPERIDONE
     Indication: Nausea
     Dosage: 10 MILLIGRAM
     Route: 048
     Dates: start: 20150420, end: 20150427
  219. DOMPERIDONE [Concomitant]
     Active Substance: DOMPERIDONE
     Dosage: 10 MG, TID (DOSE FORM:245)
     Route: 048
     Dates: start: 20150420, end: 20150427
  220. DOMPERIDONE [Concomitant]
     Active Substance: DOMPERIDONE
     Dosage: 10 MG EVERY 0.3 DAY
     Route: 048
     Dates: start: 20150420, end: 20150427
  221. DOMPERIDONE [Concomitant]
     Active Substance: DOMPERIDONE
     Dosage: 10 MG, QD
     Dates: start: 20150420, end: 20150427
  222. DOMPERIDONE [Concomitant]
     Active Substance: DOMPERIDONE
     Dosage: 10 MG, Q3D/EVERY 3 DAY
     Route: 048
     Dates: start: 20150420, end: 20150427
  223. LANOLIN\LIGHT MINERAL OIL\PARAFFIN [Concomitant]
     Active Substance: LANOLIN\LIGHT MINERAL OIL\PARAFFIN
     Indication: Pruritus
     Dosage: UNK UNK, AS NECESSARY; ; (DOSE FORM: 17)
     Route: 061
     Dates: start: 20150515
  224. LANOLIN\LIGHT MINERAL OIL\PARAFFIN [Concomitant]
     Active Substance: LANOLIN\LIGHT MINERAL OIL\PARAFFIN
     Indication: Dry skin
     Dosage: UNK, PRN (1 TABLESPOON); AS NECESSARY (DOSE: 17)
     Route: 061
     Dates: start: 20150515
  225. LANOLIN\LIGHT MINERAL OIL\PARAFFIN [Concomitant]
     Active Substance: LANOLIN\LIGHT MINERAL OIL\PARAFFIN
     Indication: Pruritus
     Dosage: UNK (AS NECESSARY)
     Route: 061
     Dates: start: 20150515
  226. LANOLIN\LIGHT MINERAL OIL\PARAFFIN [Concomitant]
     Active Substance: LANOLIN\LIGHT MINERAL OIL\PARAFFIN
     Dosage: UNK 1 TABLESPOON
     Route: 061
     Dates: start: 20150515
  227. LANOLIN\LIGHT MINERAL OIL\PARAFFIN [Concomitant]
     Active Substance: LANOLIN\LIGHT MINERAL OIL\PARAFFIN
     Dosage: DOSE: 1, AS NECESSARY, 1 TABLESPOON (DOSE FORM: 17)
     Route: 061
     Dates: start: 20150515
  228. LANOLIN\LIGHT MINERAL OIL\PARAFFIN [Concomitant]
     Active Substance: LANOLIN\LIGHT MINERAL OIL\PARAFFIN
     Dosage: UNK
  229. LANOLIN\LIGHT MINERAL OIL\PARAFFIN [Concomitant]
     Active Substance: LANOLIN\LIGHT MINERAL OIL\PARAFFIN
     Dosage: 1 DOSAGE FORM, PRN (1 TBSP (TABLESPOON DOSING UNIT)); (PHARMACEUTICAL DOSE FORM: 17)
     Route: 061
     Dates: start: 20150515
  230. LANOLIN\LIGHT MINERAL OIL\PARAFFIN [Concomitant]
     Active Substance: LANOLIN\LIGHT MINERAL OIL\PARAFFIN
     Dosage: 1 TABLESPOON (DOSE FORM:17)
     Route: 061
     Dates: start: 20150515
  231. LANOLIN\LIGHT MINERAL OIL\PARAFFIN [Concomitant]
     Active Substance: LANOLIN\LIGHT MINERAL OIL\PARAFFIN
     Dosage: 1 TABLESPOON, AS NECESSARY
     Route: 061
     Dates: start: 20150515
  232. LANOLIN\LIGHT MINERAL OIL\PARAFFIN [Concomitant]
     Active Substance: LANOLIN\LIGHT MINERAL OIL\PARAFFIN
     Dosage: 1 TABLESPOON
     Dates: start: 20150515
  233. ENOXAPARIN [Concomitant]
     Active Substance: ENOXAPARIN
     Indication: Influenza
     Dosage: 40 MG, QD
     Route: 058
     Dates: start: 20180220
  234. ENOXAPARIN [Concomitant]
     Active Substance: ENOXAPARIN
     Dosage: 40 MG, EVERY 1 DAY
     Route: 058
     Dates: start: 20180219, end: 20180220
  235. ENOXAPARIN [Concomitant]
     Active Substance: ENOXAPARIN
     Dosage: 40 MG
     Route: 058
     Dates: start: 20180219, end: 20180220
  236. ENOXAPARIN SODIUM [Concomitant]
     Active Substance: ENOXAPARIN SODIUM
     Indication: Product used for unknown indication
     Dosage: 40 MG, QD. EVERY1 DAY
     Route: 058
     Dates: start: 20180219, end: 20180220
  237. SODIUM ALGINATE\SODIUM BICARBONATE [Concomitant]
     Active Substance: SODIUM ALGINATE\SODIUM BICARBONATE
     Indication: Gastrooesophageal reflux disease
     Dosage: 20 MILLIGRAM, AS NECESSARY
     Route: 048
     Dates: start: 201505
  238. SODIUM ALGINATE\SODIUM BICARBONATE [Concomitant]
     Active Substance: SODIUM ALGINATE\SODIUM BICARBONATE
     Indication: Product used for unknown indication
     Dosage: UNK
     Route: 065
  239. HYDROCORTISONE [Concomitant]
     Active Substance: HYDROCORTISONE
     Indication: Eczema
     Dosage: UNK, PRN; AS NECESSARY (DOSE FORM: 17)
     Route: 061
  240. HYDROCORTISONE [Concomitant]
     Active Substance: HYDROCORTISONE
     Dosage: 1 DRP (DOSE FORM:17)
     Route: 061
  241. HYDROCORTISONE [Concomitant]
     Active Substance: HYDROCORTISONE
     Dosage: 1% CREAM (1 DRP) (DOSE FORM:17)
     Route: 065
  242. HYDROCORTISONE [Concomitant]
     Active Substance: HYDROCORTISONE
     Dosage: 1 DRP (DOSE FORM:17)
     Route: 065
  243. HYDROCORTISONE [Concomitant]
     Active Substance: HYDROCORTISONE
     Dosage: 400 MG (DOSE FORM: 245)
     Route: 048
     Dates: start: 20161229
  244. HYDROCORTISONE [Concomitant]
     Active Substance: HYDROCORTISONE
     Dosage: 1 % CREAM, 1 [DRP]
  245. HYDROCORTISONE [Concomitant]
     Active Substance: HYDROCORTISONE
     Indication: Eczema
     Dosage: 1 % CREAM (DOSE FORM:17)
     Route: 065
  246. HYDROCORTISONE [Concomitant]
     Active Substance: HYDROCORTISONE
     Dosage: 1 GTT DROPS, PRN (AS NECESSARY); (PHARMACEUTICAL DOSE FORM: 17)
     Route: 061
  247. HYDROCORTISONE [Concomitant]
     Active Substance: HYDROCORTISONE
     Dosage: 1 % CREAM
  248. HYDROCORTISONE [Concomitant]
     Active Substance: HYDROCORTISONE
     Dosage: 1 PERCENT CREAM
  249. HYDROCORTISONE [Concomitant]
     Active Substance: HYDROCORTISONE
     Dosage: 400 MILLIGRAM
     Dates: start: 20161229
  250. IBUPROFEN [Concomitant]
     Active Substance: IBUPROFEN
     Indication: Spinal pain
     Dosage: 400 MILLIGRAM, PRN, (DOSE FORM: 245; CUMULATIVE DOSE: 2800 MG)
     Route: 048
     Dates: start: 20161229
  251. IBUPROFEN [Concomitant]
     Active Substance: IBUPROFEN
     Indication: Arthralgia
     Dosage: 1 AS NECESSARY (DOSE FORM: 245)
     Route: 048
     Dates: start: 20161229
  252. IBUPROFEN [Concomitant]
     Active Substance: IBUPROFEN
     Dosage: 400 MG
     Route: 048
     Dates: start: 20161229
  253. IBUPROFEN [Concomitant]
     Active Substance: IBUPROFEN
     Dosage: UNK
     Route: 048
     Dates: start: 20161229
  254. IBUPROFEN [Concomitant]
     Active Substance: IBUPROFEN
     Dosage: 400 MG, (DOSE FORM: 245)
     Route: 048
     Dates: start: 20161229
  255. IBUPROFEN [Concomitant]
     Active Substance: IBUPROFEN
     Dosage: 200 MILLIGRAM, BID (400 MILLIGRAM, QD ), (PHARMACEUTICAL DOSE FORM: 245)
     Route: 048
     Dates: start: 20150420, end: 20150426
  256. IBUPROFEN [Concomitant]
     Active Substance: IBUPROFEN
     Dosage: 400 MG CUMULATIVE DOSE TO FIRST REACTION: 2800 MG
     Route: 048
     Dates: start: 20161229
  257. IBUPROFEN [Concomitant]
     Active Substance: IBUPROFEN
     Dosage: 400 MG, AS NECESSARY
     Route: 048
     Dates: start: 20161229
  258. IBUPROFEN [Concomitant]
     Active Substance: IBUPROFEN
     Dosage: 200 MILLIGRAM, QD
     Route: 048
     Dates: start: 20161229
  259. POLYETHYLENE GLYCOL 3350\POTASSIUM CHLORIDE\SODIUM BICARBONATE\SODIUM [Concomitant]
     Active Substance: POLYETHYLENE GLYCOL 3350\POTASSIUM CHLORIDE\SODIUM BICARBONATE\SODIUM CHLORIDE
     Indication: Influenza
     Dosage: EVERY 0.5 DAY (SOLUTION)
     Route: 048
     Dates: start: 20180219, end: 20180220
  260. POLYETHYLENE GLYCOL 3350\POTASSIUM CHLORIDE\SODIUM BICARBONATE\SODIUM [Concomitant]
     Active Substance: POLYETHYLENE GLYCOL 3350\POTASSIUM CHLORIDE\SODIUM BICARBONATE\SODIUM CHLORIDE
     Dosage: 1 OTHER (2 EVERY 1 DAY)
     Route: 048
     Dates: start: 20180219, end: 20180220
  261. POLYETHYLENE GLYCOL 3350\POTASSIUM CHLORIDE\SODIUM BICARBONATE\SODIUM [Concomitant]
     Active Substance: POLYETHYLENE GLYCOL 3350\POTASSIUM CHLORIDE\SODIUM BICARBONATE\SODIUM CHLORIDE
     Dosage: UNK
     Route: 065
     Dates: start: 20180219, end: 20180220
  262. POLYETHYLENE GLYCOL 3350\POTASSIUM CHLORIDE\SODIUM BICARBONATE\SODIUM [Concomitant]
     Active Substance: POLYETHYLENE GLYCOL 3350\POTASSIUM CHLORIDE\SODIUM BICARBONATE\SODIUM CHLORIDE
     Dosage: 1 SACHET EVERY 0.5 DAY
     Route: 048
     Dates: start: 20180219, end: 20180220
  263. POLYETHYLENE GLYCOL 3350\POTASSIUM CHLORIDE\SODIUM BICARBONATE\SODIUM [Concomitant]
     Active Substance: POLYETHYLENE GLYCOL 3350\POTASSIUM CHLORIDE\SODIUM BICARBONATE\SODIUM CHLORIDE
     Dosage: UNK
     Route: 065
     Dates: start: 20180219, end: 20180220
  264. POLYETHYLENE GLYCOL 3350\POTASSIUM CHLORIDE\SODIUM BICARBONATE\SODIUM [Concomitant]
     Active Substance: POLYETHYLENE GLYCOL 3350\POTASSIUM CHLORIDE\SODIUM BICARBONATE\SODIUM CHLORIDE
     Dosage: 0.5 DAY(1 SACHET )
     Route: 048
     Dates: start: 20180219, end: 20180220
  265. POLYETHYLENE GLYCOL 3350\POTASSIUM CHLORIDE\SODIUM BICARBONATE\SODIUM [Concomitant]
     Active Substance: POLYETHYLENE GLYCOL 3350\POTASSIUM CHLORIDE\SODIUM BICARBONATE\SODIUM CHLORIDE
     Dosage: DOSE: 2, 1 SACHET, DAILY
     Route: 048
     Dates: start: 20180219, end: 20180220
  266. POLYETHYLENE GLYCOL 3350\POTASSIUM CHLORIDE\SODIUM BICARBONATE\SODIUM [Concomitant]
     Active Substance: POLYETHYLENE GLYCOL 3350\POTASSIUM CHLORIDE\SODIUM BICARBONATE\SODIUM CHLORIDE
     Dosage: 1 DF, BID (1 SACHET)
     Route: 048
     Dates: start: 20180219, end: 20180220
  267. POLYETHYLENE GLYCOL 3350\POTASSIUM CHLORIDE\SODIUM BICARBONATE\SODIUM [Concomitant]
     Active Substance: POLYETHYLENE GLYCOL 3350\POTASSIUM CHLORIDE\SODIUM BICARBONATE\SODIUM CHLORIDE
     Dosage: 1 SACHET (2 EVERY 1 DAY)
     Route: 048
     Dates: start: 20180219, end: 20180220
  268. POLYETHYLENE GLYCOL 3350\POTASSIUM CHLORIDE\SODIUM BICARBONATE\SODIUM [Concomitant]
     Active Substance: POLYETHYLENE GLYCOL 3350\POTASSIUM CHLORIDE\SODIUM BICARBONATE\SODIUM CHLORIDE
     Dosage: 2 DF, 1X/DAY (1 SACHET)
     Route: 048
     Dates: start: 20180219, end: 20180220
  269. POLYETHYLENE GLYCOL 3350\POTASSIUM CHLORIDE\SODIUM BICARBONATE\SODIUM [Concomitant]
     Active Substance: POLYETHYLENE GLYCOL 3350\POTASSIUM CHLORIDE\SODIUM BICARBONATE\SODIUM CHLORIDE
     Dosage: 1 SACHET (2DF, QD)
     Route: 048
     Dates: start: 20180219, end: 20180220
  270. POLYETHYLENE GLYCOL 3350\POTASSIUM CHLORIDE\SODIUM BICARBONATE\SODIUM [Concomitant]
     Active Substance: POLYETHYLENE GLYCOL 3350\POTASSIUM CHLORIDE\SODIUM BICARBONATE\SODIUM CHLORIDE
     Dosage: UNK, EVERY 0.5 DAY 1 SACHET
     Route: 048
     Dates: start: 20180219, end: 20180220
  271. POLYETHYLENE GLYCOL 3350\POTASSIUM CHLORIDE\SODIUM BICARBONATE\SODIUM [Concomitant]
     Active Substance: POLYETHYLENE GLYCOL 3350\POTASSIUM CHLORIDE\SODIUM BICARBONATE\SODIUM CHLORIDE
     Dosage: 0.5 DAY(1 SACHET )
     Dates: start: 20180219, end: 20180220
  272. LOPERAMIDE [Concomitant]
     Active Substance: LOPERAMIDE
     Indication: Diarrhoea
     Dosage: 2 MG AS NEEDED/AS NECESSARY (DOSE FORM: 245)
     Route: 048
     Dates: start: 20150516, end: 20150516
  273. LOPERAMIDE [Concomitant]
     Active Substance: LOPERAMIDE
     Dosage: 2 MG EVERY 1 DAY AS NEEDED (DOSE FORM: 245)
     Route: 048
     Dates: start: 20150516, end: 20150516
  274. LOPERAMIDE [Concomitant]
     Active Substance: LOPERAMIDE
     Dosage: 2 MG (DOSE FORM: 245)
     Route: 048
     Dates: start: 20150516, end: 20150516
  275. LOPERAMIDE [Concomitant]
     Active Substance: LOPERAMIDE
     Dosage: 2 MG
     Route: 048
     Dates: start: 20150516, end: 20150516
  276. LOPERAMIDE [Concomitant]
     Active Substance: LOPERAMIDE
     Dosage: 2 MG, QD AS NECESSARY
     Route: 048
     Dates: start: 20150516, end: 20150516
  277. MEGACE [Concomitant]
     Active Substance: MEGESTROL ACETATE
     Indication: Menopausal symptoms
     Dosage: 80 MG, EVERY 2 DAYS/QOD (DOSE FORM: 245)
     Route: 048
     Dates: start: 20150601
  278. MEGACE [Concomitant]
     Active Substance: MEGESTROL ACETATE
     Indication: Night sweats
     Dosage: 80 MG, EVERY 1 DAY (DOSE FORM: 245)
     Route: 048
     Dates: start: 20150601
  279. MEGACE [Concomitant]
     Active Substance: MEGESTROL ACETATE
     Dosage: 80 MG (DOSE FORM: 245)
     Route: 048
     Dates: start: 20150601
  280. MEGACE [Concomitant]
     Active Substance: MEGESTROL ACETATE
     Dosage: 80 MG BID
     Route: 048
     Dates: start: 20150601
  281. MEGACE [Concomitant]
     Active Substance: MEGESTROL ACETATE
     Dosage: 80 MG (DOSE FORM: 245)
     Route: 048
  282. MEGACE [Concomitant]
     Active Substance: MEGESTROL ACETATE
     Dosage: 80 MG, EVERY 2 DAYS
     Route: 048
     Dates: start: 20150601
  283. MEGACE [Concomitant]
     Active Substance: MEGESTROL ACETATE
     Dosage: 80 MG
     Route: 048
     Dates: start: 20150601
  284. MEGACE [Concomitant]
     Active Substance: MEGESTROL ACETATE
     Dosage: 80 MG (DOSE FORM: 245)
  285. MEGACE [Concomitant]
     Active Substance: MEGESTROL ACETATE
     Dosage: 80 MG, EVERY OTHER DAY
     Route: 048
     Dates: start: 20150601
  286. MEGACE [Concomitant]
     Active Substance: MEGESTROL ACETATE
     Dosage: UNK (DOSE FORM:245)
  287. MEGACE [Concomitant]
     Active Substance: MEGESTROL ACETATE
     Dosage: 80 MILLIGRAM, BID (DOSE FORM: 245; CUMULATIVE DOSE: 158886.67 MG)
     Route: 048
     Dates: start: 20150601
  288. MEGACE [Concomitant]
     Active Substance: MEGESTROL ACETATE
     Dosage: 80 MG, EVERY OTHER DAY
     Route: 048
     Dates: start: 20150601
  289. MEGACE [Concomitant]
     Active Substance: MEGESTROL ACETATE
     Dosage: 160 MILLIGRAM, BID (CUMULATIVE DOSE: 403213.34 MG)
     Route: 048
     Dates: start: 20150601
  290. MEGACE [Concomitant]
     Active Substance: MEGESTROL ACETATE
     Dosage: 160 MILLIGRAM, BID, CUMULATIVE DOSE TO FIRST REACTION: 13440.0 MG
     Route: 048
     Dates: start: 20150601
  291. MEGACE [Concomitant]
     Active Substance: MEGESTROL ACETATE
     Dosage: 160 MILLIGRAM, EVERY 0.5 DAY (160 MILLIGRAM, BID)
     Dates: start: 20150601
  292. PARAFFIN\WAX, EMULSIFYING [Concomitant]
     Active Substance: PARAFFIN\WAX, EMULSIFYING
     Dosage: UNK
     Route: 061
     Dates: start: 20181112
  293. MEGESTROL ACETATE [Concomitant]
     Active Substance: MEGESTROL ACETATE
     Indication: Menopausal symptoms
     Dosage: 80 MG, QD/ EVERY 1 DAY (DOSE FORM: 245)
     Route: 048
     Dates: start: 20150601
  294. MEGESTROL ACETATE [Concomitant]
     Active Substance: MEGESTROL ACETATE
     Dosage: 80 MILLIGRAM
     Route: 048
     Dates: start: 20150601
  295. METHYL SALICYLATE [Concomitant]
     Active Substance: METHYL SALICYLATE
     Indication: Product used for unknown indication
     Dosage: UNK UNK, AS NECESSARY
     Route: 048
     Dates: start: 20161229
  296. METHYL SALICYLATE [Concomitant]
     Active Substance: METHYL SALICYLATE
     Dosage: UNK UNK, PRN; AS NECESSARY
     Dates: start: 20161229
  297. NAPROXEN [Concomitant]
     Active Substance: NAPROXEN
     Indication: Arthralgia
     Dosage: 250 MILLIGRAM, PRN (AS NECESSARY), (DOSE FORM: 245)
     Route: 048
     Dates: start: 2015, end: 20160314
  298. NAPROXEN [Concomitant]
     Active Substance: NAPROXEN
     Indication: Influenza
     Dosage: 500 MG, BID (DOSE FORM: 245)
     Route: 048
     Dates: start: 20180218, end: 20180220
  299. NAPROXEN [Concomitant]
     Active Substance: NAPROXEN
     Dosage: (DOSE FORM: 245)
     Route: 048
     Dates: start: 2015, end: 20160314
  300. NAPROXEN [Concomitant]
     Active Substance: NAPROXEN
     Dosage: 500 MG EVERY 0.5 DAY
     Route: 048
     Dates: start: 20180218, end: 20180220
  301. NAPROXEN [Concomitant]
     Active Substance: NAPROXEN
     Dosage: UNK
     Route: 048
     Dates: start: 2015, end: 20160314
  302. NAPROXEN [Concomitant]
     Active Substance: NAPROXEN
     Dosage: 1000 MG, QD CUMULATIVE DOSE TO FIRST REACTION: 3000 MG
     Route: 048
     Dates: start: 20180218, end: 20180220
  303. NAPROXEN [Concomitant]
     Active Substance: NAPROXEN
     Dosage: 500 MG CUMULATIVE DOSE TO FIRST REACTION: 3000 MG
     Route: 048
     Dates: start: 20180218, end: 20180220
  304. NAPROXEN [Concomitant]
     Active Substance: NAPROXEN
     Dosage: 500 MG (DOSE FORM: 245)
     Route: 048
     Dates: start: 2015, end: 20160314
  305. NAPROXEN [Concomitant]
     Active Substance: NAPROXEN
     Dosage: 500 MG, BID/Q12HR (DOSE FORM: 245)
     Route: 048
     Dates: start: 20180218, end: 20180220
  306. NAPROXEN [Concomitant]
     Active Substance: NAPROXEN
     Dosage: 500 MG, QD
     Route: 048
     Dates: start: 20180218, end: 20180220
  307. NAPROXEN [Concomitant]
     Active Substance: NAPROXEN
     Dosage: 500 MG, QD
     Route: 048
     Dates: start: 2015, end: 20160314
  308. NAPROXEN [Concomitant]
     Active Substance: NAPROXEN
     Dosage: 500 MG, QD
     Route: 048
     Dates: start: 2015, end: 20160314
  309. NAPROXEN [Concomitant]
     Active Substance: NAPROXEN
     Dosage: 250 MG, QD
     Route: 048
     Dates: start: 2015, end: 20160314
  310. NAPROXEN [Concomitant]
     Active Substance: NAPROXEN
     Dosage: 250 MG (CUMULATIVE DOSE: 3000MG)
     Route: 048
     Dates: start: 2015, end: 20160314
  311. SODIUM CHLORIDE [Concomitant]
     Active Substance: SODIUM CHLORIDE
     Indication: Abdominal pain
     Dosage: 0.9%, AS NEEDED.
     Route: 042
     Dates: start: 20160125, end: 20160125
  312. SODIUM CHLORIDE [Concomitant]
     Active Substance: SODIUM CHLORIDE
     Dosage: 1000 ML, AS NECESSARY
     Route: 042
     Dates: start: 20160125, end: 20160125
  313. SODIUM CHLORIDE [Concomitant]
     Active Substance: SODIUM CHLORIDE
     Dosage: 1000 ML, AS NECESSARY (0.9%, AS NEEDED) (DOSE FORM: 231)
     Route: 042
     Dates: start: 20160125, end: 20160125
  314. SODIUM CHLORIDE [Concomitant]
     Active Substance: SODIUM CHLORIDE
     Dosage: 1000 ML
     Route: 042
     Dates: start: 20160125, end: 20160125
  315. SODIUM CHLORIDE [Concomitant]
     Active Substance: SODIUM CHLORIDE
     Dosage: 1000 MILLILITER, PM, PRN, (1000 ML, AS NEEDED)
     Route: 042
     Dates: start: 20160125, end: 20160125
  316. OMEPRAZOLE [Concomitant]
     Active Substance: OMEPRAZOLE
     Indication: Gastrooesophageal reflux disease
     Dosage: 20 MG, QD (DOSE FORM: 245)
     Route: 048
     Dates: start: 20150713
  317. OMEPRAZOLE [Concomitant]
     Active Substance: OMEPRAZOLE
     Indication: Gastritis
     Dosage: 20 MILLIGRAM, QD CUMULATIVE DOSE TO FIRST REACTION: 440 MG
     Route: 048
     Dates: start: 20150622, end: 20150713
  318. OMEPRAZOLE [Concomitant]
     Active Substance: OMEPRAZOLE
     Dosage: 220 MG QD/EVERY 1 DAY (DOSE FORM: 245)
     Route: 048
     Dates: start: 20150622, end: 20150713
  319. OMEPRAZOLE [Concomitant]
     Active Substance: OMEPRAZOLE
     Dosage: 220 MG EVERY 1 DAY
     Route: 048
     Dates: start: 20150622, end: 20150713
  320. OMEPRAZOLE [Concomitant]
     Active Substance: OMEPRAZOLE
     Dosage: 20 MG QD/EVERY 1 DAY
     Route: 048
     Dates: start: 20150622, end: 20150713
  321. OMEPRAZOLE [Concomitant]
     Active Substance: OMEPRAZOLE
     Dosage: 20 MG (DOSE FORM: 245)
     Route: 048
  322. OMEPRAZOLE [Concomitant]
     Active Substance: OMEPRAZOLE
     Dosage: 20 MG QD (DOSE FORM: 245)
     Route: 048
     Dates: start: 20150622
  323. OMEPRAZOLE [Concomitant]
     Active Substance: OMEPRAZOLE
     Dosage: 20 MG, 1X/DAY
     Route: 048
     Dates: start: 20150622
  324. OMEPRAZOLE [Concomitant]
     Active Substance: OMEPRAZOLE
     Dosage: 20 MILLIGRAM (CUMULATIVE DOSE: 440MG)
     Route: 048
     Dates: start: 20150713
  325. OMEPRAZOLE [Concomitant]
     Active Substance: OMEPRAZOLE
     Dosage: 20 MILLIGRAM, EVERY 1 DAY
     Route: 048
     Dates: start: 20150622
  326. ACETAMINOPHEN [Concomitant]
     Active Substance: ACETAMINOPHEN
     Indication: Arthralgia
     Dosage: 1 GRAM, EVERY 0.25/4 DAY (DOSE FORM: 245)/1 GRAM, QID
     Route: 048
     Dates: start: 20180220
  327. ACETAMINOPHEN [Concomitant]
     Active Substance: ACETAMINOPHEN
     Indication: Influenza
     Dosage: 1 GRAM, EVERY 0.25 DAY
     Route: 048
     Dates: start: 20150427
  328. ACETAMINOPHEN [Concomitant]
     Active Substance: ACETAMINOPHEN
     Dosage: 1 G, QID (DOSE FORM:245)
     Route: 048
     Dates: start: 20150427, end: 20150505
  329. ACETAMINOPHEN [Concomitant]
     Active Substance: ACETAMINOPHEN
     Dosage: 4 G EVERY 1 DAY (DOSE FORM:245)
     Route: 048
     Dates: start: 20180218, end: 20180220
  330. ACETAMINOPHEN [Concomitant]
     Active Substance: ACETAMINOPHEN
     Dosage: 1 G (DOSE FORM:245)
     Route: 048
     Dates: start: 20150420, end: 20180217
  331. ACETAMINOPHEN [Concomitant]
     Active Substance: ACETAMINOPHEN
     Dosage: 1 G, QID (DOSE FORM:245)
     Route: 048
     Dates: start: 20180218, end: 20180220
  332. ACETAMINOPHEN [Concomitant]
     Active Substance: ACETAMINOPHEN
     Dosage: 1 G, QID
     Route: 048
     Dates: start: 20180218, end: 20180220
  333. ACETAMINOPHEN [Concomitant]
     Active Substance: ACETAMINOPHEN
     Dosage: 1 GRAM, EVERY 0.25 DAY
     Route: 048
     Dates: start: 20150427, end: 20150505
  334. ACETAMINOPHEN [Concomitant]
     Active Substance: ACETAMINOPHEN
     Dosage: 1 GRAM, QD
     Route: 048
     Dates: start: 20150427, end: 20150505
  335. ACETAMINOPHEN [Concomitant]
     Active Substance: ACETAMINOPHEN
     Dosage: 4 G QD CUMULATIVE DOSE TO FIRST REACTION: 168 G
     Route: 048
     Dates: start: 20180218, end: 20180220
  336. ACETAMINOPHEN [Concomitant]
     Active Substance: ACETAMINOPHEN
     Dosage: 1 GRAM, QID
     Route: 048
     Dates: start: 20150427
  337. ACETAMINOPHEN [Concomitant]
     Active Substance: ACETAMINOPHEN
     Dosage: 4 GRAM, QD (DOSE FORM:245; CUMULATIVE DOSE: 4112 G)
     Route: 048
     Dates: start: 20150427
  338. ACETAMINOPHEN [Concomitant]
     Active Substance: ACETAMINOPHEN
     Dosage: 1 GRAM, QID (DOSE FORM:245; CUMULATIVE DOSE: 4112 G)
     Route: 048
     Dates: start: 20150427, end: 20180217
  339. ACETAMINOPHEN [Concomitant]
     Active Substance: ACETAMINOPHEN
     Dosage: 1 G, QD
     Route: 048
     Dates: start: 20180218, end: 20180220
  340. ACETAMINOPHEN [Concomitant]
     Active Substance: ACETAMINOPHEN
     Dosage: 1 G, QD
     Route: 048
     Dates: start: 20150420, end: 20180217
  341. ACETAMINOPHEN [Concomitant]
     Active Substance: ACETAMINOPHEN
     Dosage: 1 G, QD
     Route: 048
     Dates: start: 20150427, end: 20150505
  342. ACETAMINOPHEN [Concomitant]
     Active Substance: ACETAMINOPHEN
     Dosage: 4 GRAM, QD (CUMULATIVE DOSE: 168G)
     Route: 048
     Dates: start: 20180218, end: 20180220
  343. ACETAMINOPHEN [Concomitant]
     Active Substance: ACETAMINOPHEN
     Dosage: 4 GRAM, QID (CUMULATIVE DOSE: 168 G)
     Route: 048
     Dates: start: 20150427, end: 20150505
  344. ACETAMINOPHEN [Concomitant]
     Active Substance: ACETAMINOPHEN
     Dosage: 4 GRAM, QD CUMULATIVE DOSE TO FIRST REACTION: 168 G
     Route: 048
     Dates: start: 20150427, end: 20150505
  345. ACETAMINOPHEN [Concomitant]
     Active Substance: ACETAMINOPHEN
     Dosage: 1 GRAM, QID (CUMULATIVE DOSE TO FIRST REACTION: 168 G)
     Route: 048
     Dates: start: 20180220
  346. ACETAMINOPHEN [Concomitant]
     Active Substance: ACETAMINOPHEN
     Dosage: 1 GRAM, QD (CUMULATIVE DOSE TO FIRST REACTION: 13G)
     Route: 048
     Dates: start: 20150427, end: 20150505
  347. ACETAMINOPHEN [Concomitant]
     Active Substance: ACETAMINOPHEN
     Dosage: 1 GRAM, QD  (CUMULATIVE DOSE TO FIRST REACTION: 13G)
     Route: 048
     Dates: start: 20150420, end: 20180217
  348. ACETAMINOPHEN [Concomitant]
     Active Substance: ACETAMINOPHEN
     Dosage: 1 GRAM, QD  (CUMULATIVE DOSE TO FIRST REACTION: 13G)
     Route: 048
     Dates: start: 20180218, end: 20180220
  349. MINERAL OIL [Concomitant]
     Active Substance: MINERAL OIL
     Dosage: UNK
     Route: 061
     Dates: start: 20181112
  350. RANITIDINE [Concomitant]
     Active Substance: RANITIDINE
     Indication: Gastrooesophageal reflux disease
     Dosage: 150 MG, 0.5 DAY
     Route: 048
     Dates: start: 20150421
  351. RANITIDINE [Concomitant]
     Active Substance: RANITIDINE
     Dosage: 300 MG QD/EVERY 1 DAY (DOSE FORM: 245)
     Route: 048
     Dates: start: 20150421
  352. RANITIDINE [Concomitant]
     Active Substance: RANITIDINE
     Dosage: 150 MILLIGRAM, BID (300 MILLIGRAM, QD), (DOSE FORM: 245; CUMULATIVE DOSE: 310212.5 MG)
     Route: 048
     Dates: start: 20150421
  353. RANITIDINE [Concomitant]
     Active Substance: RANITIDINE
     Dosage: 150 MG QD/EVERY 1 DAY (DOSE FORM: 245)
     Route: 048
     Dates: start: 20150421
  354. RANITIDINE [Concomitant]
     Active Substance: RANITIDINE
     Dosage: 300 MG QD/EVERY 1 DAY
     Route: 048
     Dates: start: 20150421
  355. RANITIDINE [Concomitant]
     Active Substance: RANITIDINE
     Dosage: 150 MG, QD
     Route: 048
     Dates: start: 20150421
  356. RANITIDINE [Concomitant]
     Active Substance: RANITIDINE
     Dosage: 150 MG
     Route: 048
     Dates: start: 20150421
  357. RANITIDINE [Concomitant]
     Active Substance: RANITIDINE
     Dosage: 300 MG
     Route: 048
     Dates: start: 20150421
  358. SENNA [Concomitant]
     Active Substance: SENNA LEAF\SENNOSIDES\SENNOSIDES A AND B
     Indication: Influenza
     Dosage: SOLUTION (EVERY 1 DAY)/ 1 SACHET
     Route: 048
     Dates: start: 20180219, end: 20180220
  359. SENNA [Concomitant]
     Active Substance: SENNA LEAF\SENNOSIDES\SENNOSIDES A AND B
     Dosage: 1 OTHER (1, EVEY 1 DAY)
     Route: 048
     Dates: start: 20180219, end: 20180220
  360. SENNA [Concomitant]
     Active Substance: SENNA LEAF\SENNOSIDES\SENNOSIDES A AND B
     Dosage: DOSE: 1, 1 SACHET, DAILY
     Route: 048
     Dates: start: 20180219, end: 20180220
  361. SENNA [Concomitant]
     Active Substance: SENNA LEAF\SENNOSIDES\SENNOSIDES A AND B
     Dosage: UNK UNK, QD;
     Route: 048
     Dates: start: 20180209, end: 20180220
  362. SENNA [Concomitant]
     Active Substance: SENNA LEAF\SENNOSIDES\SENNOSIDES A AND B
     Dosage: 1 DF, QD (1 SACHET)
     Route: 048
     Dates: start: 20180219, end: 20180220
  363. SENNA [Concomitant]
     Active Substance: SENNA LEAF\SENNOSIDES\SENNOSIDES A AND B
     Dosage: 1 SACHET (1DF, QD)
     Route: 048
     Dates: start: 20180219, end: 20180220
  364. SENNA [Concomitant]
     Active Substance: SENNA LEAF\SENNOSIDES\SENNOSIDES A AND B
     Dosage: 1 SACHET
     Route: 048
     Dates: start: 20180219, end: 20180220
  365. TAMIFLU [Concomitant]
     Active Substance: OSELTAMIVIR PHOSPHATE
     Indication: Influenza
     Dosage: 75 MG, 0.5/DAY
     Route: 048
     Dates: start: 20180226
  366. TAMIFLU [Concomitant]
     Active Substance: OSELTAMIVIR PHOSPHATE
     Dosage: 150 MILLIGRAM, QD CUMULATIVE DOSE TO FIRST REACTION: 600 MG
     Route: 048
     Dates: start: 20180219, end: 20180226
  367. TAMIFLU [Concomitant]
     Active Substance: OSELTAMIVIR PHOSPHATE
     Dosage: 75 MILLIGRAM, QD CUMULATIVE DOSE TO FIRST REACTION: 600 MG
     Route: 048
     Dates: start: 20180219, end: 20180226
  368. TAMIFLU [Concomitant]
     Active Substance: OSELTAMIVIR PHOSPHATE
     Dosage: 75 MG, EVERY 0.5 DAY
     Route: 048
     Dates: start: 20180219, end: 20180226
  369. TAMIFLU [Concomitant]
     Active Substance: OSELTAMIVIR PHOSPHATE
     Dosage: 75 MG (DOSE FORM: 245)
     Route: 048
     Dates: start: 20180219, end: 20180226
  370. TAMIFLU [Concomitant]
     Active Substance: OSELTAMIVIR PHOSPHATE
     Dosage: 150 MILLIGRAM, QD CUMULATIVE DOSE TO FIRST REACTION: 600 MG
     Route: 048
     Dates: start: 20180226
  371. TAMIFLU [Concomitant]
     Active Substance: OSELTAMIVIR PHOSPHATE
     Dosage: 75 MG, QD/EVERY 1 DAY (DOSE FORM: 245)
     Route: 048
     Dates: start: 20180219, end: 20180226
  372. TAMIFLU [Concomitant]
     Active Substance: OSELTAMIVIR PHOSPHATE
     Dosage: 75 MG, QD/EVERY 1 DAY (DOSE FORM: 245; CUMULATIVE DOSE TO FIRST REACTION: 77703.125 MG)
     Route: 048
     Dates: start: 20180219, end: 20180226
  373. TAMIFLU [Concomitant]
     Active Substance: OSELTAMIVIR PHOSPHATE
     Dosage: 75 MG, QD
     Route: 048
     Dates: start: 20180219, end: 20180226
  374. TAMIFLU [Concomitant]
     Active Substance: OSELTAMIVIR PHOSPHATE
     Dosage: 150 MG, QD (CUMULATIVE DOSE TO FIRST REACTION: 600 MG)
     Route: 048
     Dates: start: 20180219, end: 20180226
  375. TAMIFLU [Concomitant]
     Active Substance: OSELTAMIVIR PHOSPHATE
     Dosage: 75 MILLIGRAM, QD, CUMULATIVE DOSE TO FIRST REACTION: 77703.125 MG
     Route: 048
     Dates: start: 20180219, end: 20180226
  376. PIPERACILLIN SODIUM\TAZOBACTAM SODIUM [Concomitant]
     Active Substance: PIPERACILLIN SODIUM\TAZOBACTAM SODIUM
     Indication: Neutropenic sepsis
     Dosage: 4.5 G EVERY 0.3 DAYS
     Route: 042
     Dates: start: 20150429
  377. PIPERACILLIN SODIUM\TAZOBACTAM SODIUM [Concomitant]
     Active Substance: PIPERACILLIN SODIUM\TAZOBACTAM SODIUM
     Indication: Influenza
     Dosage: 4.5 G, EVERY 0.33 DAY
     Route: 042
     Dates: start: 20180220
  378. PIPERACILLIN SODIUM\TAZOBACTAM SODIUM [Concomitant]
     Active Substance: PIPERACILLIN SODIUM\TAZOBACTAM SODIUM
     Indication: Spinal pain
     Dosage: 13.5 MILLIGRAM, QD CUMULATIVE DOSE TO FIRST REACTION: 40.5 MG
     Route: 042
     Dates: start: 20180218, end: 20180220
  379. PIPERACILLIN SODIUM\TAZOBACTAM SODIUM [Concomitant]
     Active Substance: PIPERACILLIN SODIUM\TAZOBACTAM SODIUM
     Dosage: 4.5 GRAM, TID
     Route: 042
     Dates: start: 20150429
  380. PIPERACILLIN SODIUM\TAZOBACTAM SODIUM [Concomitant]
     Active Substance: PIPERACILLIN SODIUM\TAZOBACTAM SODIUM
     Dosage: 4.5 G EVERY 3 DAYS/Q8HR/TID (DOSE FORM: 120)
     Route: 042
     Dates: start: 20150429
  381. PIPERACILLIN SODIUM\TAZOBACTAM SODIUM [Concomitant]
     Active Substance: PIPERACILLIN SODIUM\TAZOBACTAM SODIUM
     Dosage: 4.5 G, EVERY 0.33 DAY/Q8HR (DOSE FORM: 120)
     Route: 042
     Dates: start: 20180218, end: 20180220
  382. PIPERACILLIN SODIUM\TAZOBACTAM SODIUM [Concomitant]
     Active Substance: PIPERACILLIN SODIUM\TAZOBACTAM SODIUM
     Dosage: 4.5 G, QD/ EVERY 1 DAY (DOSE FORM: 230)
     Route: 042
     Dates: start: 20180218, end: 20180220
  383. PIPERACILLIN SODIUM\TAZOBACTAM SODIUM [Concomitant]
     Active Substance: PIPERACILLIN SODIUM\TAZOBACTAM SODIUM
     Dosage: 4.5 G (DOSE FORM: 230)
     Route: 042
     Dates: start: 20150429
  384. PIPERACILLIN SODIUM\TAZOBACTAM SODIUM [Concomitant]
     Active Substance: PIPERACILLIN SODIUM\TAZOBACTAM SODIUM
     Dosage: 4.5 GRAM, TID
     Route: 042
     Dates: start: 20180218, end: 20180220
  385. PIPERACILLIN SODIUM\TAZOBACTAM SODIUM [Concomitant]
     Active Substance: PIPERACILLIN SODIUM\TAZOBACTAM SODIUM
     Dosage: 13.5 MG QD/EVERY 1 DAY (DOSE FORM: 230)
     Route: 042
     Dates: start: 20150429
  386. PIPERACILLIN SODIUM\TAZOBACTAM SODIUM [Concomitant]
     Active Substance: PIPERACILLIN SODIUM\TAZOBACTAM SODIUM
     Dosage: 4.5 G, QD (4.5 GRAM, QD (0.33 DAY) (DOSE FORM:120)
     Route: 042
     Dates: start: 20180220
  387. PIPERACILLIN SODIUM\TAZOBACTAM SODIUM [Concomitant]
     Active Substance: PIPERACILLIN SODIUM\TAZOBACTAM SODIUM
     Dosage: 13.4 MG QD/EVERY 1 DAY (DOSE FORM: 120)
     Route: 042
     Dates: start: 20150429
  388. PIPERACILLIN SODIUM\TAZOBACTAM SODIUM [Concomitant]
     Active Substance: PIPERACILLIN SODIUM\TAZOBACTAM SODIUM
     Dosage: 4.5 GRAM, TID (CUMULATIVE DOSE: 13851.5625 G)
     Route: 042
     Dates: start: 20150429
  389. PIPERACILLIN SODIUM\TAZOBACTAM SODIUM [Concomitant]
     Active Substance: PIPERACILLIN SODIUM\TAZOBACTAM SODIUM
     Dosage: 13.5 GRAM, QD, (CUMULATIVE DOSE: 13851.5625 G)
     Route: 042
     Dates: start: 20150429
  390. PIPERACILLIN SODIUM\TAZOBACTAM SODIUM [Concomitant]
     Active Substance: PIPERACILLIN SODIUM\TAZOBACTAM SODIUM
     Dosage: 4.5 G
     Route: 042
     Dates: start: 20150429
  391. PIPERACILLIN SODIUM\TAZOBACTAM SODIUM [Concomitant]
     Active Substance: PIPERACILLIN SODIUM\TAZOBACTAM SODIUM
     Dosage: 4.5 G
     Route: 042
     Dates: start: 20180218, end: 20180220
  392. PIPERACILLIN SODIUM\TAZOBACTAM SODIUM [Concomitant]
     Active Substance: PIPERACILLIN SODIUM\TAZOBACTAM SODIUM
     Dosage: 4.5 MILLIGRAM, QD (CUMULATIVE DOSE: 40.5MG)
     Route: 042
     Dates: start: 20150429
  393. PIPERACILLIN SODIUM\TAZOBACTAM SODIUM [Concomitant]
     Active Substance: PIPERACILLIN SODIUM\TAZOBACTAM SODIUM
     Dosage: 13.5 MILLIGRAM, QD (CUMULATIVE: 40.5MG)
     Route: 048
     Dates: start: 20150429
  394. PIPERACILLIN SODIUM\TAZOBACTAM SODIUM [Concomitant]
     Active Substance: PIPERACILLIN SODIUM\TAZOBACTAM SODIUM
     Dosage: 13.4 MILLIGRAM, QD (CUMULATIVE: 40.5MG)
     Route: 048
     Dates: start: 20150429
  395. PIPERACILLIN SODIUM\TAZOBACTAM SODIUM [Concomitant]
     Active Substance: PIPERACILLIN SODIUM\TAZOBACTAM SODIUM
     Dosage: 4.5 MILLIGRAM, QD (CUMULATIVE DOSE TO FIRST REACTION: 40.5MG)
     Route: 042
     Dates: start: 20150429
  396. PIPERACILLIN SODIUM\TAZOBACTAM SODIUM [Concomitant]
     Active Substance: PIPERACILLIN SODIUM\TAZOBACTAM SODIUM
     Dosage: 4.5 GRAM, QD
     Route: 042
     Dates: start: 20150429
  397. PIPERACILLIN SODIUM\TAZOBACTAM SODIUM [Concomitant]
     Active Substance: PIPERACILLIN SODIUM\TAZOBACTAM SODIUM
     Dosage: 4.5 GRAM, QD
     Route: 042
     Dates: start: 20180218, end: 20180220
  398. PIPERACILLIN SODIUM\TAZOBACTAM SODIUM [Concomitant]
     Active Substance: PIPERACILLIN SODIUM\TAZOBACTAM SODIUM
     Dosage: 4.5 GRAM, QD
     Route: 042
     Dates: start: 20150429
  399. PIPERACILLIN SODIUM\TAZOBACTAM SODIUM [Concomitant]
     Active Substance: PIPERACILLIN SODIUM\TAZOBACTAM SODIUM
     Dosage: 4.5 GRAM, QD
     Route: 042
     Dates: start: 20180218, end: 20180220
  400. PARAFFIN [Concomitant]
     Active Substance: PARAFFIN
     Dosage: UNK, AS NECESSARY
     Route: 061
     Dates: start: 20160816
  401. PARAFFIN [Concomitant]
     Active Substance: PARAFFIN
     Dosage: UNK
     Route: 061
  402. PARAFFIN [Concomitant]
     Active Substance: PARAFFIN
     Dosage: UNK
     Route: 061
     Dates: start: 20160816
  403. PARAFFIN [Concomitant]
     Active Substance: PARAFFIN
     Dosage: 1 TBSP (TABLESPOON
     Route: 061
  404. PARAFFIN [Concomitant]
     Active Substance: PARAFFIN
     Dosage: UNK, (1 TBSP TABLESPOON)
     Dates: start: 20160816
  405. PARAFFIN [Concomitant]
     Active Substance: PARAFFIN
     Indication: Epistaxis
     Dosage: 1 TBSP (TABLESPOON (DOSE FORM: 21)
     Route: 061
     Dates: start: 20160816
  406. PARAFFIN [Concomitant]
     Active Substance: PARAFFIN
     Dosage: TBSP (TABLESPOON)
     Route: 061
     Dates: start: 20160816
  407. PARAFFIN [Concomitant]
     Active Substance: PARAFFIN
     Dosage: 1, AS NECESSARY
     Route: 061
     Dates: start: 20181112
  408. PARAFFIN [Concomitant]
     Active Substance: PARAFFIN
     Dosage: UNK
     Route: 061
     Dates: start: 20181112
  409. PARAFFIN [Concomitant]
     Active Substance: PARAFFIN
     Dosage: UNK UNK, AS NECESSARY
     Route: 061
     Dates: start: 20160816
  410. PARAFFIN [Concomitant]
     Active Substance: PARAFFIN
     Dosage: 1 DOSAGE FORM, PRN (1 TBSP (TABLESPOON DOSING UNIT)), (DOSE FORM: 21)
     Route: 061
     Dates: start: 20160816
  411. PARAFFIN [Concomitant]
     Active Substance: PARAFFIN
     Dosage: UNK
     Route: 061
     Dates: start: 20181112
  412. XGEVA [Concomitant]
     Active Substance: DENOSUMAB
     Indication: Product used for unknown indication
     Dosage: 120 MG, QMO/EVERY 1 MONTH
     Route: 058
     Dates: start: 20150623
  413. XGEVA [Concomitant]
     Active Substance: DENOSUMAB
     Dosage: 120 MG, BID
     Route: 048
     Dates: start: 20180115
  414. XGEVA [Concomitant]
     Active Substance: DENOSUMAB
     Dosage: 240 MG, QD/EVERY 1 DAY/ Q12HR/BID
     Route: 048
  415. XGEVA [Concomitant]
     Active Substance: DENOSUMAB
     Dosage: 120 MG Q12HR/BID (DOSE FORM: 245)
     Route: 048
  416. XGEVA [Concomitant]
     Active Substance: DENOSUMAB
     Dosage: 120 MG Q12HR/BID (DOSE FORM: 245)
     Route: 048
     Dates: start: 20180115
  417. XGEVA [Concomitant]
     Active Substance: DENOSUMAB
     Dosage: 120 MG, QM/EVERY 1 MONTH (DOSE FORM: 245) (CUMULATIVE DOSE TO FIRST REACTION: 2760 MG)
     Route: 058
     Dates: start: 20150623, end: 20170508
  418. XGEVA [Concomitant]
     Active Substance: DENOSUMAB
     Dosage: 240 MG, QD/EVERY 1 DAY (DOSE FORM: 245)
     Dates: start: 20180115
  419. XGEVA [Concomitant]
     Active Substance: DENOSUMAB
     Dosage: 240 MILLIGRAM, QD (CUMULATIVE DOSE: 2760MG)/0.5 PER DAY
     Route: 048
     Dates: start: 20180115
  420. XGEVA [Concomitant]
     Active Substance: DENOSUMAB
     Dosage: 120 MG Q12HR/BID (CUMULATIVE DOSE: 2760MG)
     Route: 048
  421. XGEVA [Concomitant]
     Active Substance: DENOSUMAB
     Indication: Product used for unknown indication
     Dosage: 120 MG, 0.5 PER DAY CUMULATIVE DOSE TO FIRST REACTION: 2760 MG
     Route: 048
     Dates: start: 20180115
  422. XGEVA [Concomitant]
     Active Substance: DENOSUMAB
     Dosage: 120 MILLIGRAM, QMO CUMULATIVE DOSE TO FIRST REACTION: 2760 MG
     Route: 058
     Dates: start: 20150623, end: 20170508
  423. XGEVA [Concomitant]
     Active Substance: DENOSUMAB
     Dosage: 120 MILLIGRAM, Q12HR/BID CUMULATIVE DOSE TO FIRST REACTION: 2760 MG
     Route: 048
  424. XGEVA [Concomitant]
     Active Substance: DENOSUMAB
     Dosage: 240 MILLIGRAM, QD CUMULATIVE DOSE TO FIRST REACTION: 2760 MG
     Route: 048
     Dates: start: 20180115
  425. XGEVA [Concomitant]
     Active Substance: DENOSUMAB
     Dosage: 120 MILLIGRAM, QMO CUMULATIVE DOSE TO FIRST REACTION: 256.0 MG
     Route: 058
     Dates: start: 20150623, end: 20170508
  426. XGEVA [Concomitant]
     Active Substance: DENOSUMAB
     Dosage: 240 MILLIGRAM, QD CUMULATIVE DOSE TO FIRST REACTION: 240250.0 MG
     Route: 048
     Dates: start: 20180115
  427. XGEVA [Concomitant]
     Active Substance: DENOSUMAB
     Dosage: 240 MILLIGRAM, QD CUMULATIVE DOSE TO FIRST REACTION: 240250.0 MG
     Route: 048
     Dates: start: 20180115
  428. ZOPICLONE [Concomitant]
     Active Substance: ZOPICLONE
     Indication: Sleep disorder
     Dosage: 3.75 MG AT NIGHT
     Route: 048
     Dates: start: 20151019
  429. ZOPICLONE [Concomitant]
     Active Substance: ZOPICLONE
     Dosage: 3.75 MG AS NECESSARY (DOSE FORM: 245)
     Route: 048
     Dates: start: 20151019
  430. ZOPICLONE [Concomitant]
     Active Substance: ZOPICLONE
     Dosage: 3.75 MG
     Route: 048
     Dates: start: 20151019
  431. ZOPICLONE [Concomitant]
     Active Substance: ZOPICLONE
     Dosage: 3.75 MG, QD (3.75 MILLIGRAM, AT NIGHT) (DOSE FORM: 245)
     Route: 048
     Dates: start: 20151019
  432. ZOPICLONE [Concomitant]
     Active Substance: ZOPICLONE
     Dosage: 3.75 MG (DOSE FORM: 245)
     Route: 048
     Dates: start: 20151019
  433. XGEVA [Concomitant]
     Active Substance: DENOSUMAB
     Indication: Product used for unknown indication
     Dosage: 120 MG, EVERY 0.5 DAY (120 MILLIGRAM, BID)
     Route: 048
     Dates: start: 20180115
  434. XGEVA [Concomitant]
     Active Substance: DENOSUMAB
     Dosage: 120 MILLIGRAM, MONTHLY
     Route: 048
     Dates: start: 20150623, end: 20170508

REACTIONS (33)
  - Eczema [Recovered/Resolved]
  - Ovarian cyst [Recovered/Resolved]
  - Arthralgia [Recovered/Resolved with Sequelae]
  - Diarrhoea [Recovered/Resolved]
  - Dry eye [Recovered/Resolved]
  - Dry skin [Not Recovered/Not Resolved]
  - Influenza [Recovered/Resolved]
  - Neutropenic sepsis [Recovered/Resolved]
  - Rash [Recovered/Resolved]
  - Off label use [Unknown]
  - Night sweats [Not Recovered/Not Resolved]
  - Night sweats [Not Recovered/Not Resolved]
  - Sleep disorder [Unknown]
  - Mood swings [Recovered/Resolved]
  - Gastrooesophageal reflux disease [Recovered/Resolved]
  - Eczema [Recovered/Resolved]
  - Glossodynia [Unknown]
  - Lethargy [Recovered/Resolved]
  - Gastritis [Recovered/Resolved]
  - Hypoaesthesia oral [Recovered/Resolved]
  - Epistaxis [Not Recovered/Not Resolved]
  - Epistaxis [Recovered/Resolved]
  - Constipation [Recovered/Resolved]
  - Dry eye [Unknown]
  - Nausea [Recovered/Resolved]
  - Dysgeusia [Recovered/Resolved]
  - Arthralgia [Recovered/Resolved with Sequelae]
  - Decreased appetite [Recovered/Resolved]
  - Headache [Recovered/Resolved]
  - Nausea [Recovered/Resolved]
  - Abdominal pain [Recovered/Resolved]
  - Pruritus [Unknown]
  - Intentional product misuse [Unknown]

NARRATIVE: CASE EVENT DATE: 20150420
